FAERS Safety Report 22808727 (Version 7)
Quarter: 2025Q1

REPORT INFORMATION
  Report Type: Spontaneous
  Country: CA (occurrence: CA)
  Receive Date: 20230810
  Receipt Date: 20250228
  Transmission Date: 20250409
  Serious: Yes (Other)
  Sender: CELLTRION
  Company Number: CA-CELLTRION INC.-2022CA018181

PATIENT

DRUGS (1200)
  1. ADALIMUMAB [Suspect]
     Active Substance: ADALIMUMAB
     Indication: Deep vein thrombosis
     Route: 065
  2. ADALIMUMAB [Suspect]
     Active Substance: ADALIMUMAB
     Indication: Colitis ulcerative
     Route: 058
  3. ADALIMUMAB [Suspect]
     Active Substance: ADALIMUMAB
     Indication: Crohn^s disease
     Route: 048
  4. ADALIMUMAB [Suspect]
     Active Substance: ADALIMUMAB
  5. ADALIMUMAB [Suspect]
     Active Substance: ADALIMUMAB
     Route: 058
  6. ADALIMUMAB [Suspect]
     Active Substance: ADALIMUMAB
     Route: 042
  7. ADALIMUMAB [Suspect]
     Active Substance: ADALIMUMAB
     Route: 065
  8. ADALIMUMAB [Suspect]
     Active Substance: ADALIMUMAB
     Route: 065
  9. ADALIMUMAB [Suspect]
     Active Substance: ADALIMUMAB
     Route: 065
  10. ADALIMUMAB [Suspect]
     Active Substance: ADALIMUMAB
     Route: 065
  11. ADALIMUMAB [Suspect]
     Active Substance: ADALIMUMAB
     Indication: Crohn^s disease
     Route: 065
  12. ADALIMUMAB [Suspect]
     Active Substance: ADALIMUMAB
     Indication: Colitis ulcerative
     Route: 065
  13. ADALIMUMAB [Suspect]
     Active Substance: ADALIMUMAB
     Indication: Crohn^s disease
     Route: 042
  14. ADALIMUMAB [Suspect]
     Active Substance: ADALIMUMAB
     Route: 058
  15. ADALIMUMAB [Suspect]
     Active Substance: ADALIMUMAB
     Route: 048
  16. ASPIRIN [Suspect]
     Active Substance: ASPIRIN
     Indication: Ill-defined disorder
  17. ALBENDAZOLE [Suspect]
     Active Substance: ALBENDAZOLE
     Indication: Deep vein thrombosis
     Route: 042
  18. ALBENDAZOLE [Suspect]
     Active Substance: ALBENDAZOLE
     Indication: Colitis ulcerative
     Route: 042
  19. ALBENDAZOLE [Suspect]
     Active Substance: ALBENDAZOLE
     Indication: Crohn^s disease
     Route: 042
  20. ALBENDAZOLE [Suspect]
     Active Substance: ALBENDAZOLE
     Route: 048
  21. ALBENDAZOLE [Suspect]
     Active Substance: ALBENDAZOLE
     Route: 065
  22. ASACOL [Suspect]
     Active Substance: MESALAMINE
     Indication: Colitis ulcerative
     Route: 065
  23. ASACOL [Suspect]
     Active Substance: MESALAMINE
     Route: 065
  24. ASACOL [Suspect]
     Active Substance: MESALAMINE
     Route: 065
  25. ASACOL [Suspect]
     Active Substance: MESALAMINE
     Route: 065
  26. ASACOL [Suspect]
     Active Substance: MESALAMINE
     Route: 065
  27. ASACOL [Suspect]
     Active Substance: MESALAMINE
     Route: 065
  28. ASACOL [Suspect]
     Active Substance: MESALAMINE
     Route: 065
  29. ASACOL [Suspect]
     Active Substance: MESALAMINE
     Route: 065
  30. ASACOL [Suspect]
     Active Substance: MESALAMINE
     Route: 065
  31. ASACOL [Suspect]
     Active Substance: MESALAMINE
     Route: 065
  32. ASACOL [Suspect]
     Active Substance: MESALAMINE
     Route: 065
  33. ASACOL [Suspect]
     Active Substance: MESALAMINE
     Route: 065
  34. ASACOL [Suspect]
     Active Substance: MESALAMINE
     Route: 065
  35. ASACOL [Suspect]
     Active Substance: MESALAMINE
     Route: 065
  36. ASACOL [Suspect]
     Active Substance: MESALAMINE
     Route: 065
  37. ASACOL [Suspect]
     Active Substance: MESALAMINE
     Route: 065
  38. ASACOL [Suspect]
     Active Substance: MESALAMINE
     Route: 065
  39. ASACOL [Suspect]
     Active Substance: MESALAMINE
     Route: 065
  40. ASACOL [Suspect]
     Active Substance: MESALAMINE
     Route: 065
  41. ASACOL [Suspect]
     Active Substance: MESALAMINE
     Route: 065
  42. ASACOL [Suspect]
     Active Substance: MESALAMINE
     Route: 065
  43. ASACOL [Suspect]
     Active Substance: MESALAMINE
     Route: 065
  44. ASACOL [Suspect]
     Active Substance: MESALAMINE
     Route: 048
  45. ASACOL [Suspect]
     Active Substance: MESALAMINE
     Route: 065
  46. ASACOL [Suspect]
     Active Substance: MESALAMINE
     Route: 048
  47. ASACOL [Suspect]
     Active Substance: MESALAMINE
     Route: 048
  48. ASACOL [Suspect]
     Active Substance: MESALAMINE
     Route: 065
  49. ASACOL [Suspect]
     Active Substance: MESALAMINE
     Indication: Colitis ulcerative
     Route: 065
  50. ASACOL [Suspect]
     Active Substance: MESALAMINE
     Route: 065
  51. ASACOL [Suspect]
     Active Substance: MESALAMINE
     Route: 065
  52. ASACOL [Suspect]
     Active Substance: MESALAMINE
     Route: 065
  53. ASACOL [Suspect]
     Active Substance: MESALAMINE
     Route: 065
  54. ASACOL [Suspect]
     Active Substance: MESALAMINE
     Route: 065
  55. ASACOL [Suspect]
     Active Substance: MESALAMINE
     Route: 065
  56. ASACOL [Suspect]
     Active Substance: MESALAMINE
     Route: 065
  57. ASACOL [Suspect]
     Active Substance: MESALAMINE
     Route: 065
  58. ASACOL [Suspect]
     Active Substance: MESALAMINE
     Route: 065
  59. ASACOL [Suspect]
     Active Substance: MESALAMINE
     Route: 065
  60. ASACOL [Suspect]
     Active Substance: MESALAMINE
     Route: 065
  61. ASACOL [Suspect]
     Active Substance: MESALAMINE
     Route: 065
  62. ASACOL [Suspect]
     Active Substance: MESALAMINE
  63. ASACOL [Suspect]
     Active Substance: MESALAMINE
     Route: 065
  64. ASACOL [Suspect]
     Active Substance: MESALAMINE
     Route: 048
  65. ASACOL [Suspect]
     Active Substance: MESALAMINE
     Route: 048
  66. ASACOL [Suspect]
     Active Substance: MESALAMINE
     Route: 048
  67. ASACOL [Suspect]
     Active Substance: MESALAMINE
     Route: 065
  68. ASACOL [Suspect]
     Active Substance: MESALAMINE
     Route: 065
  69. ASACOL [Suspect]
     Active Substance: MESALAMINE
     Route: 065
  70. ASACOL [Suspect]
     Active Substance: MESALAMINE
     Route: 065
  71. ASACOL [Suspect]
     Active Substance: MESALAMINE
     Route: 065
  72. ASACOL [Suspect]
     Active Substance: MESALAMINE
     Indication: Colitis ulcerative
     Route: 065
  73. ASACOL [Suspect]
     Active Substance: MESALAMINE
     Route: 065
  74. ASACOL [Suspect]
     Active Substance: MESALAMINE
     Route: 065
  75. ASACOL [Suspect]
     Active Substance: MESALAMINE
     Route: 065
  76. ASACOL [Suspect]
     Active Substance: MESALAMINE
     Route: 065
  77. ASACOL [Suspect]
     Active Substance: MESALAMINE
     Route: 065
  78. ASACOL [Suspect]
     Active Substance: MESALAMINE
     Route: 065
  79. ASACOL [Suspect]
     Active Substance: MESALAMINE
     Route: 065
  80. ASACOL [Suspect]
     Active Substance: MESALAMINE
     Route: 065
  81. ASACOL [Suspect]
     Active Substance: MESALAMINE
     Route: 065
  82. ASACOL [Suspect]
     Active Substance: MESALAMINE
     Route: 065
  83. ASACOL [Suspect]
     Active Substance: MESALAMINE
     Route: 065
  84. ASACOL [Suspect]
     Active Substance: MESALAMINE
     Route: 065
  85. ASACOL [Suspect]
     Active Substance: MESALAMINE
     Route: 065
  86. ASACOL [Suspect]
     Active Substance: MESALAMINE
     Route: 065
  87. ASACOL [Suspect]
     Active Substance: MESALAMINE
     Route: 065
  88. ASACOL [Suspect]
     Active Substance: MESALAMINE
     Route: 065
  89. ASACOL [Suspect]
     Active Substance: MESALAMINE
     Route: 065
  90. ASACOL [Suspect]
     Active Substance: MESALAMINE
     Route: 065
  91. ASACOL [Suspect]
     Active Substance: MESALAMINE
     Route: 065
  92. ASACOL [Suspect]
     Active Substance: MESALAMINE
     Route: 065
  93. ASACOL [Suspect]
     Active Substance: MESALAMINE
     Indication: Product used for unknown indication
  94. ASACOL [Suspect]
     Active Substance: MESALAMINE
     Indication: Colitis ulcerative
  95. ASACOL [Suspect]
     Active Substance: MESALAMINE
  96. ASACOL [Suspect]
     Active Substance: MESALAMINE
  97. ASACOL [Suspect]
     Active Substance: MESALAMINE
  98. ASACOL [Suspect]
     Active Substance: MESALAMINE
  99. ASACOL [Suspect]
     Active Substance: MESALAMINE
  100. ASACOL [Suspect]
     Active Substance: MESALAMINE
  101. ASACOL [Suspect]
     Active Substance: MESALAMINE
  102. ASACOL [Suspect]
     Active Substance: MESALAMINE
     Route: 065
  103. ASACOL [Suspect]
     Active Substance: MESALAMINE
     Route: 065
  104. ASACOL [Suspect]
     Active Substance: MESALAMINE
     Route: 065
  105. ASACOL [Suspect]
     Active Substance: MESALAMINE
     Route: 065
  106. ASACOL [Suspect]
     Active Substance: MESALAMINE
     Indication: Product used for unknown indication
  107. ASACOL [Suspect]
     Active Substance: MESALAMINE
     Indication: Colitis ulcerative
  108. BUDESONIDE [Suspect]
     Active Substance: BUDESONIDE
     Indication: Colitis ulcerative
     Route: 048
  109. BUDESONIDE [Suspect]
     Active Substance: BUDESONIDE
     Route: 048
  110. BUDESONIDE [Suspect]
     Active Substance: BUDESONIDE
     Route: 048
  111. BUDESONIDE [Suspect]
     Active Substance: BUDESONIDE
     Route: 048
  112. BUDESONIDE [Suspect]
     Active Substance: BUDESONIDE
     Route: 048
  113. BUDESONIDE [Suspect]
     Active Substance: BUDESONIDE
     Route: 048
  114. BUDESONIDE [Suspect]
     Active Substance: BUDESONIDE
     Route: 048
  115. BUDESONIDE [Suspect]
     Active Substance: BUDESONIDE
     Route: 048
  116. BUDESONIDE [Suspect]
     Active Substance: BUDESONIDE
     Route: 048
  117. BUDESONIDE [Suspect]
     Active Substance: BUDESONIDE
     Route: 048
  118. BUDESONIDE [Suspect]
     Active Substance: BUDESONIDE
     Route: 048
  119. BUDESONIDE [Suspect]
     Active Substance: BUDESONIDE
     Route: 048
  120. BUDESONIDE [Suspect]
     Active Substance: BUDESONIDE
     Route: 048
  121. BUDESONIDE [Suspect]
     Active Substance: BUDESONIDE
     Route: 065
  122. BUDESONIDE [Suspect]
     Active Substance: BUDESONIDE
     Route: 065
  123. BUDESONIDE [Suspect]
     Active Substance: BUDESONIDE
     Route: 048
  124. BUDESONIDE [Suspect]
     Active Substance: BUDESONIDE
     Route: 048
  125. BUDESONIDE [Suspect]
     Active Substance: BUDESONIDE
     Route: 048
  126. BUDESONIDE [Suspect]
     Active Substance: BUDESONIDE
     Route: 065
  127. BUDESONIDE [Suspect]
     Active Substance: BUDESONIDE
     Route: 048
  128. BUDESONIDE [Suspect]
     Active Substance: BUDESONIDE
     Route: 048
  129. BUDESONIDE [Suspect]
     Active Substance: BUDESONIDE
     Route: 048
  130. BUDESONIDE [Suspect]
     Active Substance: BUDESONIDE
     Route: 048
  131. BUDESONIDE [Suspect]
     Active Substance: BUDESONIDE
     Route: 048
  132. BUDESONIDE [Suspect]
     Active Substance: BUDESONIDE
     Route: 048
  133. BUDESONIDE [Suspect]
     Active Substance: BUDESONIDE
     Route: 048
  134. BUDESONIDE [Suspect]
     Active Substance: BUDESONIDE
     Route: 048
  135. BUDESONIDE [Suspect]
     Active Substance: BUDESONIDE
     Route: 048
  136. BUDESONIDE [Suspect]
     Active Substance: BUDESONIDE
     Route: 065
  137. BUDESONIDE [Suspect]
     Active Substance: BUDESONIDE
     Route: 048
  138. BUDESONIDE [Suspect]
     Active Substance: BUDESONIDE
     Route: 048
  139. BUDESONIDE [Suspect]
     Active Substance: BUDESONIDE
     Route: 048
  140. BUDESONIDE [Suspect]
     Active Substance: BUDESONIDE
     Route: 048
  141. BUDESONIDE [Suspect]
     Active Substance: BUDESONIDE
     Route: 065
  142. BUDESONIDE [Suspect]
     Active Substance: BUDESONIDE
     Indication: Colitis ulcerative
     Route: 048
  143. BUDESONIDE [Suspect]
     Active Substance: BUDESONIDE
     Route: 048
  144. BUDESONIDE [Suspect]
     Active Substance: BUDESONIDE
     Route: 048
  145. BUDESONIDE [Suspect]
     Active Substance: BUDESONIDE
     Route: 048
  146. BUDESONIDE [Suspect]
     Active Substance: BUDESONIDE
     Route: 048
  147. BUDESONIDE [Suspect]
     Active Substance: BUDESONIDE
     Route: 048
  148. BUDESONIDE [Suspect]
     Active Substance: BUDESONIDE
     Route: 048
  149. BUDESONIDE [Suspect]
     Active Substance: BUDESONIDE
     Route: 048
  150. BUDESONIDE [Suspect]
     Active Substance: BUDESONIDE
     Route: 048
  151. BUDESONIDE [Suspect]
     Active Substance: BUDESONIDE
     Route: 048
  152. BUDESONIDE [Suspect]
     Active Substance: BUDESONIDE
     Route: 048
  153. BUDESONIDE [Suspect]
     Active Substance: BUDESONIDE
     Route: 048
  154. BUDESONIDE [Suspect]
     Active Substance: BUDESONIDE
     Route: 048
  155. BUDESONIDE [Suspect]
     Active Substance: BUDESONIDE
     Route: 048
  156. BUDESONIDE [Suspect]
     Active Substance: BUDESONIDE
     Route: 048
  157. BUDESONIDE [Suspect]
     Active Substance: BUDESONIDE
     Route: 048
  158. BUDESONIDE [Suspect]
     Active Substance: BUDESONIDE
     Route: 048
  159. BUDESONIDE [Suspect]
     Active Substance: BUDESONIDE
     Route: 048
  160. BUDESONIDE [Suspect]
     Active Substance: BUDESONIDE
     Route: 048
  161. BUDESONIDE [Suspect]
     Active Substance: BUDESONIDE
     Route: 065
  162. BUDESONIDE [Suspect]
     Active Substance: BUDESONIDE
     Route: 065
  163. BUDESONIDE [Suspect]
     Active Substance: BUDESONIDE
     Route: 065
  164. BUDESONIDE [Suspect]
     Active Substance: BUDESONIDE
     Route: 065
  165. BUDESONIDE [Suspect]
     Active Substance: BUDESONIDE
     Indication: Colitis ulcerative
     Route: 048
  166. BUDESONIDE [Suspect]
     Active Substance: BUDESONIDE
     Route: 048
  167. BUDESONIDE [Suspect]
     Active Substance: BUDESONIDE
     Route: 048
  168. BUDESONIDE [Suspect]
     Active Substance: BUDESONIDE
     Route: 048
  169. BUDESONIDE [Suspect]
     Active Substance: BUDESONIDE
     Route: 048
  170. BUDESONIDE [Suspect]
     Active Substance: BUDESONIDE
     Route: 048
  171. BUDESONIDE [Suspect]
     Active Substance: BUDESONIDE
     Route: 048
  172. BUDESONIDE [Suspect]
     Active Substance: BUDESONIDE
     Route: 048
  173. BUDESONIDE [Suspect]
     Active Substance: BUDESONIDE
     Route: 048
  174. BUDESONIDE [Suspect]
     Active Substance: BUDESONIDE
     Route: 048
  175. BUDESONIDE [Suspect]
     Active Substance: BUDESONIDE
     Route: 048
  176. BUDESONIDE [Suspect]
     Active Substance: BUDESONIDE
     Route: 048
  177. BUDESONIDE [Suspect]
     Active Substance: BUDESONIDE
     Route: 048
  178. BUDESONIDE [Suspect]
     Active Substance: BUDESONIDE
     Route: 048
  179. BUDESONIDE [Suspect]
     Active Substance: BUDESONIDE
     Route: 048
  180. BUDESONIDE [Suspect]
     Active Substance: BUDESONIDE
     Route: 048
  181. BUDESONIDE [Suspect]
     Active Substance: BUDESONIDE
     Route: 048
  182. BUDESONIDE [Suspect]
     Active Substance: BUDESONIDE
     Route: 048
  183. BUDESONIDE [Suspect]
     Active Substance: BUDESONIDE
     Route: 065
  184. BUDESONIDE [Suspect]
     Active Substance: BUDESONIDE
     Route: 065
  185. BUDESONIDE [Suspect]
     Active Substance: BUDESONIDE
     Route: 065
  186. BUDESONIDE [Suspect]
     Active Substance: BUDESONIDE
     Route: 065
  187. BUDESONIDE [Suspect]
     Active Substance: BUDESONIDE
     Route: 048
  188. BUDESONIDE [Suspect]
     Active Substance: BUDESONIDE
     Route: 048
  189. BUDESONIDE [Suspect]
     Active Substance: BUDESONIDE
     Route: 048
  190. BUDESONIDE [Suspect]
     Active Substance: BUDESONIDE
     Route: 048
  191. BUDESONIDE [Suspect]
     Active Substance: BUDESONIDE
     Indication: Colitis ulcerative
     Route: 048
  192. BUDESONIDE [Suspect]
     Active Substance: BUDESONIDE
     Route: 048
  193. BUDESONIDE [Suspect]
     Active Substance: BUDESONIDE
     Route: 048
  194. BUDESONIDE [Suspect]
     Active Substance: BUDESONIDE
     Route: 048
  195. BUDESONIDE [Suspect]
     Active Substance: BUDESONIDE
     Route: 048
  196. BUDESONIDE [Suspect]
     Active Substance: BUDESONIDE
     Route: 048
  197. BUDESONIDE [Suspect]
     Active Substance: BUDESONIDE
     Route: 048
  198. BUDESONIDE [Suspect]
     Active Substance: BUDESONIDE
     Route: 048
  199. BUDESONIDE [Suspect]
     Active Substance: BUDESONIDE
     Route: 048
  200. BUDESONIDE [Suspect]
     Active Substance: BUDESONIDE
     Route: 048
  201. BUDESONIDE [Suspect]
     Active Substance: BUDESONIDE
     Route: 048
  202. BUDESONIDE [Suspect]
     Active Substance: BUDESONIDE
     Route: 048
  203. BUDESONIDE [Suspect]
     Active Substance: BUDESONIDE
     Route: 048
  204. BUDESONIDE [Suspect]
     Active Substance: BUDESONIDE
     Route: 048
  205. BUDESONIDE [Suspect]
     Active Substance: BUDESONIDE
     Route: 048
  206. BUDESONIDE [Suspect]
     Active Substance: BUDESONIDE
     Route: 048
  207. CANDESARTAN [Suspect]
     Active Substance: CANDESARTAN
     Indication: Product used for unknown indication
     Route: 048
  208. CORTIFOAM [Suspect]
     Active Substance: HYDROCORTISONE ACETATE
     Indication: Colitis ulcerative
     Route: 065
  209. CORTIFOAM [Suspect]
     Active Substance: HYDROCORTISONE ACETATE
     Indication: Deep vein thrombosis
     Route: 048
  210. CORTIFOAM [Suspect]
     Active Substance: HYDROCORTISONE ACETATE
     Route: 048
  211. CORTIFOAM [Suspect]
     Active Substance: HYDROCORTISONE ACETATE
     Route: 048
  212. CORTIFOAM [Suspect]
     Active Substance: HYDROCORTISONE ACETATE
     Route: 048
  213. CORTIFOAM [Suspect]
     Active Substance: HYDROCORTISONE ACETATE
     Route: 065
  214. CORTIFOAM [Suspect]
     Active Substance: HYDROCORTISONE ACETATE
     Route: 065
  215. CORTIFOAM [Suspect]
     Active Substance: HYDROCORTISONE ACETATE
     Route: 048
  216. CORTIFOAM [Suspect]
     Active Substance: HYDROCORTISONE ACETATE
     Route: 048
  217. CORTIFOAM [Suspect]
     Active Substance: HYDROCORTISONE ACETATE
     Indication: Colitis ulcerative
     Route: 048
  218. CORTIFOAM [Suspect]
     Active Substance: HYDROCORTISONE ACETATE
     Indication: Deep vein thrombosis
     Route: 048
  219. CORTIFOAM [Suspect]
     Active Substance: HYDROCORTISONE ACETATE
     Route: 048
  220. CORTIFOAM [Suspect]
     Active Substance: HYDROCORTISONE ACETATE
     Route: 065
  221. CORTIFOAM [Suspect]
     Active Substance: HYDROCORTISONE ACETATE
     Route: 048
  222. CORTIFOAM [Suspect]
     Active Substance: HYDROCORTISONE ACETATE
     Route: 065
  223. CORTIFOAM [Suspect]
     Active Substance: HYDROCORTISONE ACETATE
     Route: 065
  224. CORTIFOAM [Suspect]
     Active Substance: HYDROCORTISONE ACETATE
     Route: 065
  225. CORTIFOAM [Suspect]
     Active Substance: HYDROCORTISONE ACETATE
     Route: 048
  226. CORTIFOAM [Suspect]
     Active Substance: HYDROCORTISONE ACETATE
     Route: 065
  227. CORTIFOAM [Suspect]
     Active Substance: HYDROCORTISONE ACETATE
     Route: 065
  228. CORTIFOAM [Suspect]
     Active Substance: HYDROCORTISONE ACETATE
     Route: 048
  229. CORTIFOAM [Suspect]
     Active Substance: HYDROCORTISONE ACETATE
     Route: 048
  230. CORTIFOAM [Suspect]
     Active Substance: HYDROCORTISONE ACETATE
     Route: 065
  231. CORTIFOAM [Suspect]
     Active Substance: HYDROCORTISONE ACETATE
     Route: 065
  232. CORTIFOAM [Suspect]
     Active Substance: HYDROCORTISONE ACETATE
     Route: 065
  233. CORTIFOAM [Suspect]
     Active Substance: HYDROCORTISONE ACETATE
     Route: 065
  234. CORTIFOAM [Suspect]
     Active Substance: HYDROCORTISONE ACETATE
     Route: 048
  235. CORTIFOAM [Suspect]
     Active Substance: HYDROCORTISONE ACETATE
     Route: 048
  236. CORTIFOAM [Suspect]
     Active Substance: HYDROCORTISONE ACETATE
     Indication: Colitis ulcerative
     Route: 065
  237. CORTIFOAM [Suspect]
     Active Substance: HYDROCORTISONE ACETATE
     Route: 065
  238. CORTIFOAM [Suspect]
     Active Substance: HYDROCORTISONE ACETATE
     Route: 065
  239. CORTIFOAM [Suspect]
     Active Substance: HYDROCORTISONE ACETATE
     Route: 048
  240. CORTIFOAM [Suspect]
     Active Substance: HYDROCORTISONE ACETATE
     Route: 048
  241. CORTIFOAM [Suspect]
     Active Substance: HYDROCORTISONE ACETATE
  242. CORTIFOAM [Suspect]
     Active Substance: HYDROCORTISONE ACETATE
     Route: 065
  243. CORTIFOAM [Suspect]
     Active Substance: HYDROCORTISONE ACETATE
     Route: 065
  244. CORTIFOAM [Suspect]
     Active Substance: HYDROCORTISONE ACETATE
     Route: 048
  245. CORTIFOAM [Suspect]
     Active Substance: HYDROCORTISONE ACETATE
     Route: 048
  246. CORTIFOAM [Suspect]
     Active Substance: HYDROCORTISONE ACETATE
     Route: 048
  247. CORTIFOAM [Suspect]
     Active Substance: HYDROCORTISONE ACETATE
     Route: 065
  248. CORTIFOAM [Suspect]
     Active Substance: HYDROCORTISONE ACETATE
     Route: 065
  249. CORTIFOAM [Suspect]
     Active Substance: HYDROCORTISONE ACETATE
     Route: 065
  250. CORTIFOAM [Suspect]
     Active Substance: HYDROCORTISONE ACETATE
     Indication: Colitis ulcerative
  251. CORTIFOAM [Suspect]
     Active Substance: HYDROCORTISONE ACETATE
     Indication: Colitis ulcerative
  252. CORTATE [Suspect]
     Active Substance: HYDROCORTISONE
     Indication: Colitis ulcerative
     Route: 048
  253. CORTATE [Suspect]
     Active Substance: HYDROCORTISONE
     Route: 048
  254. CORTATE [Suspect]
     Active Substance: HYDROCORTISONE
     Route: 048
  255. CORTATE [Suspect]
     Active Substance: HYDROCORTISONE
     Route: 048
  256. BUDESONIDE [Suspect]
     Active Substance: BUDESONIDE
     Indication: Colitis ulcerative
     Route: 048
  257. BUDESONIDE [Suspect]
     Active Substance: BUDESONIDE
     Route: 048
  258. BUDESONIDE [Suspect]
     Active Substance: BUDESONIDE
     Route: 048
  259. BUDESONIDE [Suspect]
     Active Substance: BUDESONIDE
     Route: 048
  260. BUDESONIDE [Suspect]
     Active Substance: BUDESONIDE
     Route: 048
  261. BUDESONIDE [Suspect]
     Active Substance: BUDESONIDE
     Route: 048
  262. BUDESONIDE [Suspect]
     Active Substance: BUDESONIDE
     Route: 048
  263. BUDESONIDE [Suspect]
     Active Substance: BUDESONIDE
     Route: 048
  264. BUDESONIDE [Suspect]
     Active Substance: BUDESONIDE
     Route: 048
  265. BUDESONIDE [Suspect]
     Active Substance: BUDESONIDE
     Route: 048
  266. BUDESONIDE [Suspect]
     Active Substance: BUDESONIDE
     Route: 048
  267. BUDESONIDE [Suspect]
     Active Substance: BUDESONIDE
     Route: 048
  268. BUDESONIDE [Suspect]
     Active Substance: BUDESONIDE
     Route: 048
  269. BUDESONIDE [Suspect]
     Active Substance: BUDESONIDE
     Route: 048
  270. BUDESONIDE [Suspect]
     Active Substance: BUDESONIDE
     Route: 048
  271. BUDESONIDE [Suspect]
     Active Substance: BUDESONIDE
     Route: 048
  272. BUDESONIDE [Suspect]
     Active Substance: BUDESONIDE
     Route: 048
  273. BUDESONIDE [Suspect]
     Active Substance: BUDESONIDE
     Route: 048
  274. BUDESONIDE [Suspect]
     Active Substance: BUDESONIDE
     Route: 048
  275. BUDESONIDE [Suspect]
     Active Substance: BUDESONIDE
     Route: 048
  276. BUDESONIDE [Suspect]
     Active Substance: BUDESONIDE
     Route: 065
  277. BUDESONIDE [Suspect]
     Active Substance: BUDESONIDE
     Route: 065
  278. BUDESONIDE [Suspect]
     Active Substance: BUDESONIDE
     Route: 065
  279. BUDESONIDE [Suspect]
     Active Substance: BUDESONIDE
     Route: 065
  280. BUDESONIDE [Suspect]
     Active Substance: BUDESONIDE
     Route: 065
  281. BUDESONIDE [Suspect]
     Active Substance: BUDESONIDE
     Indication: Colitis ulcerative
     Route: 048
  282. BUDESONIDE [Suspect]
     Active Substance: BUDESONIDE
     Route: 048
  283. BUDESONIDE [Suspect]
     Active Substance: BUDESONIDE
     Route: 048
  284. BUDESONIDE [Suspect]
     Active Substance: BUDESONIDE
     Route: 048
  285. BUDESONIDE [Suspect]
     Active Substance: BUDESONIDE
     Route: 048
  286. BUDESONIDE [Suspect]
     Active Substance: BUDESONIDE
     Route: 048
  287. BUDESONIDE [Suspect]
     Active Substance: BUDESONIDE
     Route: 048
  288. BUDESONIDE [Suspect]
     Active Substance: BUDESONIDE
     Route: 048
  289. BUDESONIDE [Suspect]
     Active Substance: BUDESONIDE
     Route: 048
  290. CORTISONE (HYDROCORTISONE) [Suspect]
     Active Substance: HYDROCORTISONE
     Indication: Crohn^s disease
     Route: 065
  291. CORTISONE (HYDROCORTISONE) [Suspect]
     Active Substance: HYDROCORTISONE
     Indication: Colitis ulcerative
     Route: 048
  292. CORTISONE (HYDROCORTISONE) [Suspect]
     Active Substance: HYDROCORTISONE
     Route: 048
  293. CORTISONE (HYDROCORTISONE) [Suspect]
     Active Substance: HYDROCORTISONE
     Route: 065
  294. CORTISONE (HYDROCORTISONE) [Suspect]
     Active Substance: HYDROCORTISONE
     Route: 042
  295. CORTISONE (HYDROCORTISONE) [Suspect]
     Active Substance: HYDROCORTISONE
     Route: 048
  296. CORTISONE (HYDROCORTISONE) [Suspect]
     Active Substance: HYDROCORTISONE
     Route: 065
  297. CORTISONE (HYDROCORTISONE) [Suspect]
     Active Substance: HYDROCORTISONE
     Route: 048
  298. CORTISONE (HYDROCORTISONE) [Suspect]
     Active Substance: HYDROCORTISONE
     Route: 048
  299. CORTISONE (HYDROCORTISONE) [Suspect]
     Active Substance: HYDROCORTISONE
     Route: 048
  300. CORTISONE (HYDROCORTISONE) [Suspect]
     Active Substance: HYDROCORTISONE
     Route: 048
  301. CORTISONE (HYDROCORTISONE) [Suspect]
     Active Substance: HYDROCORTISONE
     Route: 048
  302. CORTISONE (HYDROCORTISONE) [Suspect]
     Active Substance: HYDROCORTISONE
     Route: 048
  303. CORTISONE (HYDROCORTISONE) [Suspect]
     Active Substance: HYDROCORTISONE
     Route: 065
  304. CORTISONE (HYDROCORTISONE) [Suspect]
     Active Substance: HYDROCORTISONE
     Route: 065
  305. CORTISONE (HYDROCORTISONE) [Suspect]
     Active Substance: HYDROCORTISONE
     Route: 042
  306. CORTISONE (HYDROCORTISONE) [Suspect]
     Active Substance: HYDROCORTISONE
     Route: 048
  307. CORTISONE (HYDROCORTISONE) [Suspect]
     Active Substance: HYDROCORTISONE
     Route: 048
  308. CORTISONE (HYDROCORTISONE) [Suspect]
     Active Substance: HYDROCORTISONE
     Route: 048
  309. CORTISONE (HYDROCORTISONE) [Suspect]
     Active Substance: HYDROCORTISONE
     Route: 042
  310. CORTISONE (HYDROCORTISONE) [Suspect]
     Active Substance: HYDROCORTISONE
     Route: 042
  311. CORTISONE (HYDROCORTISONE) [Suspect]
     Active Substance: HYDROCORTISONE
     Route: 048
  312. CORTISONE (HYDROCORTISONE) [Suspect]
     Active Substance: HYDROCORTISONE
     Route: 048
  313. CORTISONE (HYDROCORTISONE) [Suspect]
     Active Substance: HYDROCORTISONE
     Route: 048
  314. CORTISONE (HYDROCORTISONE) [Suspect]
     Active Substance: HYDROCORTISONE
     Route: 048
  315. CORTISONE (HYDROCORTISONE) [Suspect]
     Active Substance: HYDROCORTISONE
     Route: 065
  316. CORTISONE (HYDROCORTISONE) [Suspect]
     Active Substance: HYDROCORTISONE
     Route: 048
  317. CORTISONE (HYDROCORTISONE) [Suspect]
     Active Substance: HYDROCORTISONE
     Route: 042
  318. CORTISONE (HYDROCORTISONE) [Suspect]
     Active Substance: HYDROCORTISONE
     Route: 048
  319. CORTISONE (HYDROCORTISONE) [Suspect]
     Active Substance: HYDROCORTISONE
     Route: 048
  320. CORTISONE (HYDROCORTISONE) [Suspect]
     Active Substance: HYDROCORTISONE
     Route: 048
  321. CORTISONE (HYDROCORTISONE) [Suspect]
     Active Substance: HYDROCORTISONE
     Route: 048
  322. CORTISONE (HYDROCORTISONE) [Suspect]
     Active Substance: HYDROCORTISONE
     Route: 048
  323. CORTISONE (HYDROCORTISONE) [Suspect]
     Active Substance: HYDROCORTISONE
     Route: 048
  324. CORTISONE (HYDROCORTISONE) [Suspect]
     Active Substance: HYDROCORTISONE
     Indication: Crohn^s disease
     Route: 042
  325. CORTISONE (HYDROCORTISONE) [Suspect]
     Active Substance: HYDROCORTISONE
     Indication: Colitis ulcerative
     Route: 048
  326. CORTISONE (HYDROCORTISONE) [Suspect]
     Active Substance: HYDROCORTISONE
     Route: 048
  327. CORTISONE (HYDROCORTISONE) [Suspect]
     Active Substance: HYDROCORTISONE
     Route: 065
  328. CORTISONE (HYDROCORTISONE) [Suspect]
     Active Substance: HYDROCORTISONE
     Route: 048
  329. CORTISONE (HYDROCORTISONE) [Suspect]
     Active Substance: HYDROCORTISONE
     Route: 048
  330. CORTISONE (HYDROCORTISONE) [Suspect]
     Active Substance: HYDROCORTISONE
     Route: 048
  331. CORTISONE (HYDROCORTISONE) [Suspect]
     Active Substance: HYDROCORTISONE
     Route: 065
  332. CORTISONE (HYDROCORTISONE) [Suspect]
     Active Substance: HYDROCORTISONE
     Route: 048
  333. CORTISONE (HYDROCORTISONE) [Suspect]
     Active Substance: HYDROCORTISONE
     Route: 048
  334. CORTISONE (HYDROCORTISONE) [Suspect]
     Active Substance: HYDROCORTISONE
     Route: 048
  335. CORTISONE (HYDROCORTISONE) [Suspect]
     Active Substance: HYDROCORTISONE
     Route: 048
  336. CORTISONE (HYDROCORTISONE) [Suspect]
     Active Substance: HYDROCORTISONE
     Route: 048
  337. CORTISONE (HYDROCORTISONE) [Suspect]
     Active Substance: HYDROCORTISONE
     Route: 065
  338. CORTISONE (HYDROCORTISONE) [Suspect]
     Active Substance: HYDROCORTISONE
     Route: 065
  339. CORTISONE (HYDROCORTISONE) [Suspect]
     Active Substance: HYDROCORTISONE
     Route: 048
  340. BUDESONIDE [Suspect]
     Active Substance: BUDESONIDE
     Indication: Colitis ulcerative
     Route: 048
  341. BUDESONIDE [Suspect]
     Active Substance: BUDESONIDE
     Route: 048
  342. BUDESONIDE [Suspect]
     Active Substance: BUDESONIDE
     Route: 048
  343. BUDESONIDE [Suspect]
     Active Substance: BUDESONIDE
     Indication: Colitis ulcerative
     Route: 048
  344. BUDESONIDE [Suspect]
     Active Substance: BUDESONIDE
     Route: 048
  345. ENTYVIO [Suspect]
     Active Substance: VEDOLIZUMAB
     Indication: Colitis ulcerative
     Route: 042
  346. ENTYVIO [Suspect]
     Active Substance: VEDOLIZUMAB
     Indication: Deep vein thrombosis
     Route: 065
  347. ENTYVIO [Suspect]
     Active Substance: VEDOLIZUMAB
     Route: 048
  348. ENTYVIO [Suspect]
     Active Substance: VEDOLIZUMAB
     Route: 065
  349. ENTYVIO [Suspect]
     Active Substance: VEDOLIZUMAB
     Route: 042
  350. ENTYVIO [Suspect]
     Active Substance: VEDOLIZUMAB
     Route: 042
  351. ENTYVIO [Suspect]
     Active Substance: VEDOLIZUMAB
     Route: 048
  352. ENTYVIO [Suspect]
     Active Substance: VEDOLIZUMAB
     Route: 048
  353. ENTYVIO [Suspect]
     Active Substance: VEDOLIZUMAB
     Route: 048
  354. ENTYVIO [Suspect]
     Active Substance: VEDOLIZUMAB
     Route: 048
  355. ENTYVIO [Suspect]
     Active Substance: VEDOLIZUMAB
     Route: 042
  356. ENTYVIO [Suspect]
     Active Substance: VEDOLIZUMAB
     Route: 065
  357. ENTYVIO [Suspect]
     Active Substance: VEDOLIZUMAB
     Route: 065
  358. ENTYVIO [Suspect]
     Active Substance: VEDOLIZUMAB
     Route: 065
  359. ENTYVIO [Suspect]
     Active Substance: VEDOLIZUMAB
     Route: 048
  360. ENTYVIO [Suspect]
     Active Substance: VEDOLIZUMAB
     Route: 065
  361. ENTYVIO [Suspect]
     Active Substance: VEDOLIZUMAB
     Route: 048
  362. ENTYVIO [Suspect]
     Active Substance: VEDOLIZUMAB
     Route: 065
  363. ENTYVIO [Suspect]
     Active Substance: VEDOLIZUMAB
     Indication: Deep vein thrombosis
     Route: 065
  364. ENTYVIO [Suspect]
     Active Substance: VEDOLIZUMAB
     Indication: Colitis ulcerative
     Route: 048
  365. ENTYVIO [Suspect]
     Active Substance: VEDOLIZUMAB
     Route: 042
  366. ENTYVIO [Suspect]
     Active Substance: VEDOLIZUMAB
     Route: 042
  367. ENTYVIO [Suspect]
     Active Substance: VEDOLIZUMAB
     Route: 042
  368. ENTYVIO [Suspect]
     Active Substance: VEDOLIZUMAB
     Route: 048
  369. ENTYVIO [Suspect]
     Active Substance: VEDOLIZUMAB
     Indication: Deep vein thrombosis
     Route: 048
  370. ENTYVIO [Suspect]
     Active Substance: VEDOLIZUMAB
     Indication: Colitis ulcerative
     Route: 042
  371. ENTYVIO [Suspect]
     Active Substance: VEDOLIZUMAB
     Route: 042
  372. ENTYVIO [Suspect]
     Active Substance: VEDOLIZUMAB
     Route: 042
  373. ENTYVIO [Suspect]
     Active Substance: VEDOLIZUMAB
     Route: 065
  374. ENTYVIO [Suspect]
     Active Substance: VEDOLIZUMAB
     Route: 048
  375. ENTYVIO [Suspect]
     Active Substance: VEDOLIZUMAB
     Route: 065
  376. ENTYVIO [Suspect]
     Active Substance: VEDOLIZUMAB
     Route: 042
  377. ENTYVIO [Suspect]
     Active Substance: VEDOLIZUMAB
     Route: 048
  378. ENTYVIO [Suspect]
     Active Substance: VEDOLIZUMAB
     Route: 048
  379. ENTYVIO [Suspect]
     Active Substance: VEDOLIZUMAB
     Route: 048
  380. ENTYVIO [Suspect]
     Active Substance: VEDOLIZUMAB
     Route: 065
  381. ENTYVIO [Suspect]
     Active Substance: VEDOLIZUMAB
     Route: 065
  382. ENTYVIO [Suspect]
     Active Substance: VEDOLIZUMAB
     Route: 048
  383. ENTYVIO [Suspect]
     Active Substance: VEDOLIZUMAB
     Route: 048
  384. ENTYVIO [Suspect]
     Active Substance: VEDOLIZUMAB
     Route: 048
  385. ENTYVIO [Suspect]
     Active Substance: VEDOLIZUMAB
     Route: 065
  386. ENTYVIO [Suspect]
     Active Substance: VEDOLIZUMAB
     Route: 048
  387. ENTYVIO [Suspect]
     Active Substance: VEDOLIZUMAB
     Indication: Deep vein thrombosis
     Route: 065
  388. ENTYVIO [Suspect]
     Active Substance: VEDOLIZUMAB
     Indication: Colitis ulcerative
     Route: 042
  389. ENTYVIO [Suspect]
     Active Substance: VEDOLIZUMAB
     Route: 065
  390. ENTYVIO [Suspect]
     Active Substance: VEDOLIZUMAB
     Route: 048
  391. ENTYVIO [Suspect]
     Active Substance: VEDOLIZUMAB
     Route: 048
  392. ENTYVIO [Suspect]
     Active Substance: VEDOLIZUMAB
     Route: 042
  393. ENTYVIO [Suspect]
     Active Substance: VEDOLIZUMAB
     Route: 065
  394. ENTYVIO [Suspect]
     Active Substance: VEDOLIZUMAB
     Route: 048
  395. ENTYVIO [Suspect]
     Active Substance: VEDOLIZUMAB
     Route: 042
  396. ENTYVIO [Suspect]
     Active Substance: VEDOLIZUMAB
     Route: 042
  397. ENTYVIO [Suspect]
     Active Substance: VEDOLIZUMAB
     Route: 042
  398. ENTYVIO [Suspect]
     Active Substance: VEDOLIZUMAB
     Indication: Deep vein thrombosis
     Route: 065
  399. ENTYVIO [Suspect]
     Active Substance: VEDOLIZUMAB
     Indication: Colitis ulcerative
     Route: 042
  400. ENTYVIO [Suspect]
     Active Substance: VEDOLIZUMAB
     Route: 065
  401. ENTYVIO [Suspect]
     Active Substance: VEDOLIZUMAB
     Route: 048
  402. ENTYVIO [Suspect]
     Active Substance: VEDOLIZUMAB
     Route: 065
  403. ENTYVIO [Suspect]
     Active Substance: VEDOLIZUMAB
     Route: 042
  404. ENTYVIO [Suspect]
     Active Substance: VEDOLIZUMAB
     Route: 065
  405. ENTYVIO [Suspect]
     Active Substance: VEDOLIZUMAB
     Route: 065
  406. ENTYVIO [Suspect]
     Active Substance: VEDOLIZUMAB
     Route: 065
  407. ENTYVIO [Suspect]
     Active Substance: VEDOLIZUMAB
     Route: 042
  408. ENTYVIO [Suspect]
     Active Substance: VEDOLIZUMAB
     Route: 048
  409. ENTYVIO [Suspect]
     Active Substance: VEDOLIZUMAB
     Route: 048
  410. ENTYVIO [Suspect]
     Active Substance: VEDOLIZUMAB
     Route: 048
  411. ENTYVIO [Suspect]
     Active Substance: VEDOLIZUMAB
     Route: 048
  412. ENTYVIO [Suspect]
     Active Substance: VEDOLIZUMAB
     Indication: Deep vein thrombosis
     Route: 065
  413. ENTYVIO [Suspect]
     Active Substance: VEDOLIZUMAB
     Indication: Colitis ulcerative
     Route: 048
  414. ENTYVIO [Suspect]
     Active Substance: VEDOLIZUMAB
     Route: 042
  415. ENTYVIO [Suspect]
     Active Substance: VEDOLIZUMAB
     Route: 065
  416. ENTYVIO [Suspect]
     Active Substance: VEDOLIZUMAB
     Route: 042
  417. ENTYVIO [Suspect]
     Active Substance: VEDOLIZUMAB
     Route: 048
  418. ENTYVIO [Suspect]
     Active Substance: VEDOLIZUMAB
     Route: 065
  419. ENTYVIO [Suspect]
     Active Substance: VEDOLIZUMAB
     Route: 065
  420. ENTYVIO [Suspect]
     Active Substance: VEDOLIZUMAB
     Route: 065
  421. ENTYVIO [Suspect]
     Active Substance: VEDOLIZUMAB
     Route: 042
  422. ENTYVIO [Suspect]
     Active Substance: VEDOLIZUMAB
     Route: 065
  423. ENTYVIO [Suspect]
     Active Substance: VEDOLIZUMAB
     Route: 048
  424. HUMIRA [Suspect]
     Active Substance: ADALIMUMAB
     Indication: Crohn^s disease
     Route: 065
  425. HUMIRA [Suspect]
     Active Substance: ADALIMUMAB
     Route: 065
  426. HUMIRA [Suspect]
     Active Substance: ADALIMUMAB
     Route: 058
  427. HUMIRA [Suspect]
     Active Substance: ADALIMUMAB
     Indication: Deep vein thrombosis
     Route: 048
  428. HUMIRA [Suspect]
     Active Substance: ADALIMUMAB
     Indication: Crohn^s disease
     Route: 048
  429. HUMIRA [Suspect]
     Active Substance: ADALIMUMAB
     Indication: Colitis ulcerative
     Route: 048
  430. HUMIRA [Suspect]
     Active Substance: ADALIMUMAB
     Route: 048
  431. HUMIRA [Suspect]
     Active Substance: ADALIMUMAB
     Route: 048
  432. HUMIRA [Suspect]
     Active Substance: ADALIMUMAB
     Route: 048
  433. HUMIRA [Suspect]
     Active Substance: ADALIMUMAB
     Indication: Crohn^s disease
     Route: 065
  434. HUMIRA [Suspect]
     Active Substance: ADALIMUMAB
     Route: 048
  435. HYDROCORTISONE ACETATE [Suspect]
     Active Substance: HYDROCORTISONE ACETATE
     Indication: Crohn^s disease
     Route: 065
  436. HYDROCORTISONE ACETATE [Suspect]
     Active Substance: HYDROCORTISONE ACETATE
     Indication: Colitis ulcerative
     Route: 065
  437. HYDROCORTISONE ACETATE [Suspect]
     Active Substance: HYDROCORTISONE ACETATE
     Route: 065
  438. HYDROCORTISONE ACETATE [Suspect]
     Active Substance: HYDROCORTISONE ACETATE
     Route: 048
  439. HYDROCORTISONE ACETATE [Suspect]
     Active Substance: HYDROCORTISONE ACETATE
     Route: 048
  440. HYDROCORTISONE ACETATE [Suspect]
     Active Substance: HYDROCORTISONE ACETATE
     Route: 048
  441. HYDROCORTISONE ACETATE [Suspect]
     Active Substance: HYDROCORTISONE ACETATE
     Route: 048
  442. HYDROCORTISONE ACETATE [Suspect]
     Active Substance: HYDROCORTISONE ACETATE
     Route: 048
  443. HYDROCORTISONE ACETATE [Suspect]
     Active Substance: HYDROCORTISONE ACETATE
     Route: 042
  444. HYDROCORTISONE ACETATE [Suspect]
     Active Substance: HYDROCORTISONE ACETATE
     Route: 048
  445. HYDROCORTISONE ACETATE [Suspect]
     Active Substance: HYDROCORTISONE ACETATE
     Route: 048
  446. HYDROCORTISONE ACETATE [Suspect]
     Active Substance: HYDROCORTISONE ACETATE
     Route: 048
  447. HYDROCORTISONE ACETATE [Suspect]
     Active Substance: HYDROCORTISONE ACETATE
     Route: 048
  448. HYDROCORTISONE ACETATE [Suspect]
     Active Substance: HYDROCORTISONE ACETATE
     Indication: Crohn^s disease
     Route: 065
  449. HYDROCORTISONE ACETATE [Suspect]
     Active Substance: HYDROCORTISONE ACETATE
     Indication: Colitis ulcerative
     Route: 042
  450. HYDROCORTISONE ACETATE [Suspect]
     Active Substance: HYDROCORTISONE ACETATE
     Route: 048
  451. HYDROCORTISONE ACETATE [Suspect]
     Active Substance: HYDROCORTISONE ACETATE
     Route: 065
  452. HYDROCORTISONE ACETATE [Suspect]
     Active Substance: HYDROCORTISONE ACETATE
     Route: 048
  453. HYDROCORTISONE ACETATE [Suspect]
     Active Substance: HYDROCORTISONE ACETATE
     Route: 048
  454. HYDROCORTISONE ACETATE [Suspect]
     Active Substance: HYDROCORTISONE ACETATE
     Route: 065
  455. HYDROCORTISONE ACETATE [Suspect]
     Active Substance: HYDROCORTISONE ACETATE
     Route: 048
  456. HYDROCORTISONE ACETATE [Suspect]
     Active Substance: HYDROCORTISONE ACETATE
     Route: 048
  457. HYDROCORTISONE ACETATE [Suspect]
     Active Substance: HYDROCORTISONE ACETATE
     Route: 048
  458. HYDROCORTISONE ACETATE [Suspect]
     Active Substance: HYDROCORTISONE ACETATE
     Route: 048
  459. HYDROCORTISONE ACETATE [Suspect]
     Active Substance: HYDROCORTISONE ACETATE
     Route: 048
  460. HYDROCORTISONE ACETATE [Suspect]
     Active Substance: HYDROCORTISONE ACETATE
     Route: 048
  461. HYDROCORTISONE ACETATE [Suspect]
     Active Substance: HYDROCORTISONE ACETATE
     Route: 048
  462. HYDROCORTISONE ACETATE [Suspect]
     Active Substance: HYDROCORTISONE ACETATE
     Route: 065
  463. HYDROCORTISONE ACETATE [Suspect]
     Active Substance: HYDROCORTISONE ACETATE
     Route: 065
  464. HYDROCORTISONE ACETATE [Suspect]
     Active Substance: HYDROCORTISONE ACETATE
     Route: 048
  465. HYDROCORTISONE ACETATE [Suspect]
     Active Substance: HYDROCORTISONE ACETATE
     Indication: Crohn^s disease
     Route: 048
  466. HYDROCORTISONE ACETATE [Suspect]
     Active Substance: HYDROCORTISONE ACETATE
     Indication: Colitis ulcerative
     Route: 048
  467. HYDROCORTISONE ACETATE [Suspect]
     Active Substance: HYDROCORTISONE ACETATE
     Route: 048
  468. HYDROCORTISONE ACETATE [Suspect]
     Active Substance: HYDROCORTISONE ACETATE
     Route: 048
  469. HYDROCORTISONE ACETATE [Suspect]
     Active Substance: HYDROCORTISONE ACETATE
     Route: 048
  470. HYDROCORTISONE ACETATE [Suspect]
     Active Substance: HYDROCORTISONE ACETATE
     Route: 048
  471. HYDROCORTISONE ACETATE [Suspect]
     Active Substance: HYDROCORTISONE ACETATE
     Route: 065
  472. HYDROCORTISONE ACETATE [Suspect]
     Active Substance: HYDROCORTISONE ACETATE
     Route: 042
  473. HYDROCORTISONE ACETATE [Suspect]
     Active Substance: HYDROCORTISONE ACETATE
     Route: 042
  474. HYDROCORTISONE ACETATE [Suspect]
     Active Substance: HYDROCORTISONE ACETATE
     Route: 048
  475. HYDROCORTISONE ACETATE [Suspect]
     Active Substance: HYDROCORTISONE ACETATE
     Route: 048
  476. HYDROCORTISONE ACETATE [Suspect]
     Active Substance: HYDROCORTISONE ACETATE
     Route: 048
  477. HYDROCORTISONE ACETATE [Suspect]
     Active Substance: HYDROCORTISONE ACETATE
     Route: 048
  478. HYDROCORTISONE ACETATE [Suspect]
     Active Substance: HYDROCORTISONE ACETATE
     Route: 065
  479. HYDROCORTISONE ACETATE [Suspect]
     Active Substance: HYDROCORTISONE ACETATE
     Route: 065
  480. HYDROCORTISONE ACETATE [Suspect]
     Active Substance: HYDROCORTISONE ACETATE
     Route: 065
  481. HYDROCORTISONE ACETATE [Suspect]
     Active Substance: HYDROCORTISONE ACETATE
     Route: 065
  482. HYDROCORTISONE ACETATE [Suspect]
     Active Substance: HYDROCORTISONE ACETATE
     Route: 065
  483. HYDROCORTISONE ACETATE [Suspect]
     Active Substance: HYDROCORTISONE ACETATE
     Route: 048
  484. HYDROCORTISONE ACETATE [Suspect]
     Active Substance: HYDROCORTISONE ACETATE
     Route: 065
  485. HYDROCORTISONE ACETATE [Suspect]
     Active Substance: HYDROCORTISONE ACETATE
     Route: 065
  486. HYDROCORTISONE [Suspect]
     Active Substance: HYDROCORTISONE
     Indication: Colitis ulcerative
     Route: 065
  487. HYDROCORTISONE [Suspect]
     Active Substance: HYDROCORTISONE
     Route: 048
  488. HYDROCORTISONE [Suspect]
     Active Substance: HYDROCORTISONE
     Route: 048
  489. HYDROCORTISONE [Suspect]
     Active Substance: HYDROCORTISONE
     Route: 048
  490. HYDROCORTISONE [Suspect]
     Active Substance: HYDROCORTISONE
     Route: 048
  491. HYDROCORTISONE [Suspect]
     Active Substance: HYDROCORTISONE
     Route: 048
  492. HYDROCORTISONE [Suspect]
     Active Substance: HYDROCORTISONE
     Route: 048
  493. HYDROCORTISONE [Suspect]
     Active Substance: HYDROCORTISONE
     Route: 048
  494. HYDROCORTISONE [Suspect]
     Active Substance: HYDROCORTISONE
     Route: 048
  495. HYDROCORTISONE [Suspect]
     Active Substance: HYDROCORTISONE
     Route: 048
  496. HYDROCORTISONE [Suspect]
     Active Substance: HYDROCORTISONE
     Route: 048
  497. HYDROCORTISONE [Suspect]
     Active Substance: HYDROCORTISONE
     Route: 048
  498. HYDROCORTISONE [Suspect]
     Active Substance: HYDROCORTISONE
     Route: 061
  499. HYDROCORTISONE [Suspect]
     Active Substance: HYDROCORTISONE
     Route: 048
  500. HYDROCORTISONE [Suspect]
     Active Substance: HYDROCORTISONE
     Route: 065
  501. HYDROCORTISONE [Suspect]
     Active Substance: HYDROCORTISONE
     Route: 048
  502. HYDROCORTISONE [Suspect]
     Active Substance: HYDROCORTISONE
     Route: 048
  503. HYDROCORTISONE [Suspect]
     Active Substance: HYDROCORTISONE
     Route: 048
  504. HYDROCORTISONE [Suspect]
     Active Substance: HYDROCORTISONE
     Route: 048
  505. HYDROCORTISONE [Suspect]
     Active Substance: HYDROCORTISONE
     Route: 048
  506. HYDROCORTISONE [Suspect]
     Active Substance: HYDROCORTISONE
     Route: 048
  507. HYDROCORTISONE [Suspect]
     Active Substance: HYDROCORTISONE
     Route: 048
  508. HYDROCORTISONE [Suspect]
     Active Substance: HYDROCORTISONE
     Route: 048
  509. HYDROCORTISONE [Suspect]
     Active Substance: HYDROCORTISONE
     Route: 048
  510. HYDROCORTISONE [Suspect]
     Active Substance: HYDROCORTISONE
     Route: 065
  511. HYDROCORTISONE [Suspect]
     Active Substance: HYDROCORTISONE
     Route: 048
  512. HYDROCORTISONE [Suspect]
     Active Substance: HYDROCORTISONE
     Route: 048
  513. HYDROCORTISONE [Suspect]
     Active Substance: HYDROCORTISONE
     Route: 048
  514. HYDROCORTISONE [Suspect]
     Active Substance: HYDROCORTISONE
     Dosage: 1 DOSAGE FORM 1 EVERY 2 WEEKS
     Route: 048
  515. HYDROCORTISONE [Suspect]
     Active Substance: HYDROCORTISONE
     Route: 061
  516. HYDROCORTISONE [Suspect]
     Active Substance: HYDROCORTISONE
     Route: 048
  517. HYDROCORTISONE [Suspect]
     Active Substance: HYDROCORTISONE
     Route: 065
  518. HYDROCORTISONE [Suspect]
     Active Substance: HYDROCORTISONE
     Route: 048
  519. HYDROCORTISONE [Suspect]
     Active Substance: HYDROCORTISONE
     Route: 065
  520. HYDROCORTISONE [Suspect]
     Active Substance: HYDROCORTISONE
     Route: 048
  521. HYDROCORTISONE [Suspect]
     Active Substance: HYDROCORTISONE
     Indication: Colitis ulcerative
     Route: 048
  522. HYDROCORTISONE [Suspect]
     Active Substance: HYDROCORTISONE
     Route: 048
  523. HYDROCORTISONE [Suspect]
     Active Substance: HYDROCORTISONE
     Route: 065
  524. HYDROCORTISONE [Suspect]
     Active Substance: HYDROCORTISONE
     Route: 048
  525. HYDROCORTISONE [Suspect]
     Active Substance: HYDROCORTISONE
     Route: 048
  526. HYDROCORTISONE [Suspect]
     Active Substance: HYDROCORTISONE
     Route: 048
  527. HYDROCORTISONE [Suspect]
     Active Substance: HYDROCORTISONE
     Route: 048
  528. HYDROCORTISONE [Suspect]
     Active Substance: HYDROCORTISONE
     Route: 048
  529. HYDROCORTISONE [Suspect]
     Active Substance: HYDROCORTISONE
     Route: 048
  530. HYDROCORTISONE [Suspect]
     Active Substance: HYDROCORTISONE
     Route: 048
  531. HYDROCORTISONE [Suspect]
     Active Substance: HYDROCORTISONE
     Route: 048
  532. HYDROCORTISONE [Suspect]
     Active Substance: HYDROCORTISONE
     Route: 065
  533. HYDROCORTISONE [Suspect]
     Active Substance: HYDROCORTISONE
     Route: 048
  534. HYDROCORTISONE [Suspect]
     Active Substance: HYDROCORTISONE
     Route: 048
  535. HYDROCORTISONE [Suspect]
     Active Substance: HYDROCORTISONE
     Route: 048
  536. HYDROCORTISONE [Suspect]
     Active Substance: HYDROCORTISONE
     Route: 048
  537. INFLIXIMAB [Suspect]
     Active Substance: INFLIXIMAB
     Indication: Crohn^s disease
     Route: 042
  538. INFLIXIMAB [Suspect]
     Active Substance: INFLIXIMAB
     Indication: Colitis ulcerative
     Route: 042
  539. INFLIXIMAB [Suspect]
     Active Substance: INFLIXIMAB
     Route: 042
  540. INFLIXIMAB [Suspect]
     Active Substance: INFLIXIMAB
     Dosage: 1 EVERY 2 WEEKS
     Route: 042
  541. INFLIXIMAB [Suspect]
     Active Substance: INFLIXIMAB
     Route: 042
  542. INFLIXIMAB [Suspect]
     Active Substance: INFLIXIMAB
     Route: 042
  543. INFLIXIMAB [Suspect]
     Active Substance: INFLIXIMAB
     Route: 042
  544. INFLIXIMAB [Suspect]
     Active Substance: INFLIXIMAB
     Route: 042
  545. INFLIXIMAB [Suspect]
     Active Substance: INFLIXIMAB
     Route: 042
  546. INFLIXIMAB [Suspect]
     Active Substance: INFLIXIMAB
     Route: 042
  547. INFLIXIMAB [Suspect]
     Active Substance: INFLIXIMAB
     Route: 048
  548. INFLIXIMAB [Suspect]
     Active Substance: INFLIXIMAB
     Route: 041
  549. INFLIXIMAB [Suspect]
     Active Substance: INFLIXIMAB
     Route: 041
  550. INFLIXIMAB [Suspect]
     Active Substance: INFLIXIMAB
     Route: 041
  551. INFLIXIMAB [Suspect]
     Active Substance: INFLIXIMAB
     Route: 041
  552. INFLIXIMAB [Suspect]
     Active Substance: INFLIXIMAB
     Route: 040
  553. INFLIXIMAB [Suspect]
     Active Substance: INFLIXIMAB
     Dosage: 1 EVERY 2 WEEKS
     Route: 041
  554. INFLIXIMAB [Suspect]
     Active Substance: INFLIXIMAB
     Route: 041
  555. INFLIXIMAB [Suspect]
     Active Substance: INFLIXIMAB
     Route: 041
  556. INFLIXIMAB [Suspect]
     Active Substance: INFLIXIMAB
     Route: 041
  557. INFLIXIMAB [Suspect]
     Active Substance: INFLIXIMAB
     Route: 041
  558. INFLIXIMAB [Suspect]
     Active Substance: INFLIXIMAB
     Route: 042
  559. INFLIXIMAB [Suspect]
     Active Substance: INFLIXIMAB
     Dosage: 1 DOSAGE FORM, 1 EVERY 2 WEEKS
     Route: 065
  560. INFLIXIMAB [Suspect]
     Active Substance: INFLIXIMAB
     Dosage: 1 DOSAGE FORM, 1 EVERY 2 WEEKS
     Route: 042
  561. INFLIXIMAB [Suspect]
     Active Substance: INFLIXIMAB
     Route: 042
  562. INFLIXIMAB [Suspect]
     Active Substance: INFLIXIMAB
     Route: 042
  563. INFLIXIMAB [Suspect]
     Active Substance: INFLIXIMAB
     Route: 042
  564. INFLIXIMAB [Suspect]
     Active Substance: INFLIXIMAB
     Route: 042
  565. INFLIXIMAB [Suspect]
     Active Substance: INFLIXIMAB
     Route: 042
  566. INFLIXIMAB [Suspect]
     Active Substance: INFLIXIMAB
     Indication: Crohn^s disease
     Route: 042
  567. INFLIXIMAB [Suspect]
     Active Substance: INFLIXIMAB
     Indication: Colitis ulcerative
     Route: 042
  568. INFLIXIMAB [Suspect]
     Active Substance: INFLIXIMAB
     Route: 042
  569. INFLIXIMAB [Suspect]
     Active Substance: INFLIXIMAB
     Route: 042
  570. INFLIXIMAB [Suspect]
     Active Substance: INFLIXIMAB
     Route: 042
  571. INFLIXIMAB [Suspect]
     Active Substance: INFLIXIMAB
     Route: 042
  572. INFLIXIMAB [Suspect]
     Active Substance: INFLIXIMAB
     Route: 042
  573. INFLIXIMAB [Suspect]
     Active Substance: INFLIXIMAB
     Route: 042
  574. INFLIXIMAB [Suspect]
     Active Substance: INFLIXIMAB
     Route: 042
  575. INFLIXIMAB [Suspect]
     Active Substance: INFLIXIMAB
     Route: 042
  576. INFLIXIMAB [Suspect]
     Active Substance: INFLIXIMAB
     Route: 042
  577. INFLIXIMAB [Suspect]
     Active Substance: INFLIXIMAB
     Route: 042
  578. INFLIXIMAB [Suspect]
     Active Substance: INFLIXIMAB
     Route: 065
  579. INFLIXIMAB [Suspect]
     Active Substance: INFLIXIMAB
     Route: 065
  580. INFLIXIMAB [Suspect]
     Active Substance: INFLIXIMAB
     Route: 065
  581. INFLIXIMAB [Suspect]
     Active Substance: INFLIXIMAB
     Route: 042
  582. INFLIXIMAB [Suspect]
     Active Substance: INFLIXIMAB
     Dosage: 1 EVERY 2 WEEKS
     Route: 042
  583. INFLIXIMAB [Suspect]
     Active Substance: INFLIXIMAB
     Route: 065
  584. INFLIXIMAB [Suspect]
     Active Substance: INFLIXIMAB
     Route: 042
  585. INFLIXIMAB [Suspect]
     Active Substance: INFLIXIMAB
     Route: 042
  586. INFLIXIMAB [Suspect]
     Active Substance: INFLIXIMAB
     Route: 065
  587. INFLIXIMAB [Suspect]
     Active Substance: INFLIXIMAB
     Route: 042
  588. INFLIXIMAB [Suspect]
     Active Substance: INFLIXIMAB
     Route: 042
  589. INFLIXIMAB [Suspect]
     Active Substance: INFLIXIMAB
     Route: 042
  590. INFLIXIMAB [Suspect]
     Active Substance: INFLIXIMAB
     Route: 048
  591. INFLIXIMAB [Suspect]
     Active Substance: INFLIXIMAB
     Route: 048
  592. INFLIXIMAB [Suspect]
     Active Substance: INFLIXIMAB
     Route: 036
  593. INFLIXIMAB [Suspect]
     Active Substance: INFLIXIMAB
     Route: 048
  594. INFLIXIMAB [Suspect]
     Active Substance: INFLIXIMAB
     Route: 048
  595. INFLIXIMAB [Suspect]
     Active Substance: INFLIXIMAB
     Indication: Crohn^s disease
     Route: 041
  596. INFLIXIMAB [Suspect]
     Active Substance: INFLIXIMAB
     Indication: Colitis ulcerative
     Dosage: UNK, 2/WEEK
     Route: 041
  597. INFLIXIMAB [Suspect]
     Active Substance: INFLIXIMAB
     Route: 041
  598. INFLIXIMAB [Suspect]
     Active Substance: INFLIXIMAB
     Route: 041
  599. INFLIXIMAB [Suspect]
     Active Substance: INFLIXIMAB
     Route: 041
  600. INFLIXIMAB [Suspect]
     Active Substance: INFLIXIMAB
     Route: 041
  601. INFLIXIMAB [Suspect]
     Active Substance: INFLIXIMAB
     Route: 041
  602. INFLIXIMAB [Suspect]
     Active Substance: INFLIXIMAB
     Route: 041
  603. INFLIXIMAB [Suspect]
     Active Substance: INFLIXIMAB
     Route: 041
  604. INFLIXIMAB [Suspect]
     Active Substance: INFLIXIMAB
     Route: 041
  605. INFLIXIMAB [Suspect]
     Active Substance: INFLIXIMAB
     Indication: Crohn^s disease
     Route: 042
  606. INFLIXIMAB [Suspect]
     Active Substance: INFLIXIMAB
     Indication: Colitis ulcerative
     Route: 042
  607. INFLIXIMAB [Suspect]
     Active Substance: INFLIXIMAB
     Route: 042
  608. INFLIXIMAB [Suspect]
     Active Substance: INFLIXIMAB
     Route: 042
  609. INFLIXIMAB [Suspect]
     Active Substance: INFLIXIMAB
     Route: 042
  610. INFLIXIMAB [Suspect]
     Active Substance: INFLIXIMAB
     Route: 042
  611. INFLIXIMAB [Suspect]
     Active Substance: INFLIXIMAB
     Route: 042
  612. INFLIXIMAB [Suspect]
     Active Substance: INFLIXIMAB
     Route: 042
  613. INFLIXIMAB [Suspect]
     Active Substance: INFLIXIMAB
     Route: 042
  614. INFLIXIMAB [Suspect]
     Active Substance: INFLIXIMAB
     Route: 042
  615. INFLIXIMAB [Suspect]
     Active Substance: INFLIXIMAB
     Route: 042
  616. INFLIXIMAB [Suspect]
     Active Substance: INFLIXIMAB
     Route: 042
  617. INFLIXIMAB [Suspect]
     Active Substance: INFLIXIMAB
  618. INFLIXIMAB [Suspect]
     Active Substance: INFLIXIMAB
     Route: 042
  619. INFLIXIMAB [Suspect]
     Active Substance: INFLIXIMAB
     Route: 042
  620. INFLIXIMAB [Suspect]
     Active Substance: INFLIXIMAB
     Route: 042
  621. INFLIXIMAB [Suspect]
     Active Substance: INFLIXIMAB
     Route: 042
  622. INFLIXIMAB [Suspect]
     Active Substance: INFLIXIMAB
     Route: 042
  623. INFLIXIMAB [Suspect]
     Active Substance: INFLIXIMAB
     Route: 042
  624. INFLIXIMAB [Suspect]
     Active Substance: INFLIXIMAB
     Route: 042
  625. INFLIXIMAB [Suspect]
     Active Substance: INFLIXIMAB
     Route: 042
  626. INFLIXIMAB [Suspect]
     Active Substance: INFLIXIMAB
     Route: 042
  627. INFLIXIMAB [Suspect]
     Active Substance: INFLIXIMAB
     Route: 048
  628. INFLIXIMAB [Suspect]
     Active Substance: INFLIXIMAB
     Route: 042
  629. INFLIXIMAB [Suspect]
     Active Substance: INFLIXIMAB
     Route: 042
  630. INFLIXIMAB [Suspect]
     Active Substance: INFLIXIMAB
     Route: 048
  631. INFLIXIMAB [Suspect]
     Active Substance: INFLIXIMAB
     Route: 042
  632. INFLIXIMAB [Suspect]
     Active Substance: INFLIXIMAB
     Route: 065
  633. INFLIXIMAB [Suspect]
     Active Substance: INFLIXIMAB
     Route: 065
  634. INFLIXIMAB [Suspect]
     Active Substance: INFLIXIMAB
     Route: 065
  635. INFLIXIMAB [Suspect]
     Active Substance: INFLIXIMAB
     Route: 065
  636. INFLIXIMAB [Suspect]
     Active Substance: INFLIXIMAB
     Route: 065
  637. INFLIXIMAB [Suspect]
     Active Substance: INFLIXIMAB
     Route: 042
  638. INFLIXIMAB [Suspect]
     Active Substance: INFLIXIMAB
     Dosage: 1 EVERY 2 WEEKS
     Route: 065
  639. INFLIXIMAB [Suspect]
     Active Substance: INFLIXIMAB
     Route: 065
  640. MESALAMINE [Suspect]
     Active Substance: MESALAMINE
     Indication: Deep vein thrombosis
     Route: 048
  641. MESALAMINE [Suspect]
     Active Substance: MESALAMINE
     Indication: Colitis ulcerative
     Route: 048
  642. MESALAMINE [Suspect]
     Active Substance: MESALAMINE
     Route: 065
  643. MESALAMINE [Suspect]
     Active Substance: MESALAMINE
     Route: 065
  644. MESALAMINE [Suspect]
     Active Substance: MESALAMINE
     Route: 065
  645. MESALAMINE [Suspect]
     Active Substance: MESALAMINE
     Route: 065
  646. MESALAMINE [Suspect]
     Active Substance: MESALAMINE
     Route: 065
  647. MESALAMINE [Suspect]
     Active Substance: MESALAMINE
     Route: 065
  648. MESALAMINE [Suspect]
     Active Substance: MESALAMINE
     Route: 048
  649. MESALAMINE [Suspect]
     Active Substance: MESALAMINE
     Route: 065
  650. MESALAMINE [Suspect]
     Active Substance: MESALAMINE
     Route: 065
  651. MESALAMINE [Suspect]
     Active Substance: MESALAMINE
     Route: 065
  652. MESALAMINE [Suspect]
     Active Substance: MESALAMINE
     Route: 065
  653. MESALAMINE [Suspect]
     Active Substance: MESALAMINE
     Route: 065
  654. MESALAMINE [Suspect]
     Active Substance: MESALAMINE
     Route: 065
  655. MESALAMINE [Suspect]
     Active Substance: MESALAMINE
     Route: 065
  656. MESALAMINE [Suspect]
     Active Substance: MESALAMINE
     Route: 065
  657. MESALAMINE [Suspect]
     Active Substance: MESALAMINE
     Route: 065
  658. MESALAMINE [Suspect]
     Active Substance: MESALAMINE
     Route: 065
  659. MESALAMINE [Suspect]
     Active Substance: MESALAMINE
     Route: 065
  660. MESALAMINE [Suspect]
     Active Substance: MESALAMINE
     Route: 065
  661. MESALAMINE [Suspect]
     Active Substance: MESALAMINE
     Route: 065
  662. MESALAMINE [Suspect]
     Active Substance: MESALAMINE
     Route: 065
  663. MESALAMINE [Suspect]
     Active Substance: MESALAMINE
     Route: 065
  664. MESALAMINE [Suspect]
     Active Substance: MESALAMINE
     Route: 048
  665. MESALAMINE [Suspect]
     Active Substance: MESALAMINE
     Route: 048
  666. MESALAMINE [Suspect]
     Active Substance: MESALAMINE
     Route: 065
  667. MESALAMINE [Suspect]
     Active Substance: MESALAMINE
     Route: 065
  668. MESALAMINE [Suspect]
     Active Substance: MESALAMINE
     Route: 065
  669. MESALAMINE [Suspect]
     Active Substance: MESALAMINE
     Route: 048
  670. MESALAMINE [Suspect]
     Active Substance: MESALAMINE
     Route: 065
  671. MESALAMINE [Suspect]
     Active Substance: MESALAMINE
     Route: 065
  672. MESALAMINE [Suspect]
     Active Substance: MESALAMINE
     Route: 065
  673. MESALAMINE [Suspect]
     Active Substance: MESALAMINE
     Route: 048
  674. MESALAMINE [Suspect]
     Active Substance: MESALAMINE
     Route: 065
  675. MESALAMINE [Suspect]
     Active Substance: MESALAMINE
     Route: 065
  676. MESALAMINE [Suspect]
     Active Substance: MESALAMINE
     Route: 065
  677. MESALAMINE [Suspect]
     Active Substance: MESALAMINE
     Route: 065
  678. MESALAMINE [Suspect]
     Active Substance: MESALAMINE
     Route: 065
  679. MESALAMINE [Suspect]
     Active Substance: MESALAMINE
     Route: 065
  680. MESALAMINE [Suspect]
     Active Substance: MESALAMINE
     Route: 065
  681. MESALAMINE [Suspect]
     Active Substance: MESALAMINE
     Route: 048
  682. MESALAMINE [Suspect]
     Active Substance: MESALAMINE
     Route: 048
  683. MESALAMINE [Suspect]
     Active Substance: MESALAMINE
     Route: 065
  684. MESALAMINE [Suspect]
     Active Substance: MESALAMINE
     Route: 065
  685. MESALAMINE [Suspect]
     Active Substance: MESALAMINE
     Route: 065
  686. MESALAMINE [Suspect]
     Active Substance: MESALAMINE
     Route: 065
  687. MESALAMINE [Suspect]
     Active Substance: MESALAMINE
     Route: 048
  688. MESALAMINE [Suspect]
     Active Substance: MESALAMINE
     Route: 048
  689. MESALAMINE [Suspect]
     Active Substance: MESALAMINE
     Route: 048
  690. MESALAMINE [Suspect]
     Active Substance: MESALAMINE
     Indication: Colitis ulcerative
     Route: 065
  691. MESALAMINE [Suspect]
     Active Substance: MESALAMINE
     Route: 065
  692. MESALAMINE [Suspect]
     Active Substance: MESALAMINE
     Route: 065
  693. MESALAMINE [Suspect]
     Active Substance: MESALAMINE
     Route: 065
  694. MESALAMINE [Suspect]
     Active Substance: MESALAMINE
     Route: 065
  695. MESALAMINE [Suspect]
     Active Substance: MESALAMINE
     Route: 048
  696. MESALAMINE [Suspect]
     Active Substance: MESALAMINE
     Route: 065
  697. MESALAMINE [Suspect]
     Active Substance: MESALAMINE
     Route: 048
  698. MESALAMINE [Suspect]
     Active Substance: MESALAMINE
     Route: 065
  699. MESALAMINE [Suspect]
     Active Substance: MESALAMINE
     Route: 065
  700. MESALAMINE [Suspect]
     Active Substance: MESALAMINE
     Route: 065
  701. MESALAMINE [Suspect]
     Active Substance: MESALAMINE
     Route: 065
  702. MESALAMINE [Suspect]
     Active Substance: MESALAMINE
     Route: 065
  703. MESALAMINE [Suspect]
     Active Substance: MESALAMINE
     Route: 048
  704. MESALAMINE [Suspect]
     Active Substance: MESALAMINE
     Route: 065
  705. MESALAMINE [Suspect]
     Active Substance: MESALAMINE
     Route: 065
  706. MESALAMINE [Suspect]
     Active Substance: MESALAMINE
     Route: 048
  707. MESALAMINE [Suspect]
     Active Substance: MESALAMINE
     Route: 048
  708. MESALAMINE [Suspect]
     Active Substance: MESALAMINE
     Route: 048
  709. MESALAMINE [Suspect]
     Active Substance: MESALAMINE
     Route: 065
  710. MESALAMINE [Suspect]
     Active Substance: MESALAMINE
     Route: 065
  711. MESALAMINE [Suspect]
     Active Substance: MESALAMINE
     Route: 065
  712. MESALAMINE [Suspect]
     Active Substance: MESALAMINE
     Route: 065
  713. MESALAMINE [Suspect]
     Active Substance: MESALAMINE
     Route: 065
  714. MESALAMINE [Suspect]
     Active Substance: MESALAMINE
     Route: 048
  715. MESALAMINE [Suspect]
     Active Substance: MESALAMINE
     Route: 065
  716. MESALAMINE [Suspect]
     Active Substance: MESALAMINE
     Route: 065
  717. MESALAMINE [Suspect]
     Active Substance: MESALAMINE
     Route: 048
  718. MESALAMINE [Suspect]
     Active Substance: MESALAMINE
     Route: 065
  719. MESALAMINE [Suspect]
     Active Substance: MESALAMINE
     Route: 065
  720. MESALAMINE [Suspect]
     Active Substance: MESALAMINE
     Route: 065
  721. MESALAMINE [Suspect]
     Active Substance: MESALAMINE
     Route: 048
  722. MESALAMINE [Suspect]
     Active Substance: MESALAMINE
     Route: 065
  723. MESALAMINE [Suspect]
     Active Substance: MESALAMINE
     Route: 065
  724. MESALAMINE [Suspect]
     Active Substance: MESALAMINE
     Route: 065
  725. MESALAMINE [Suspect]
     Active Substance: MESALAMINE
     Route: 065
  726. MESALAMINE [Suspect]
     Active Substance: MESALAMINE
     Route: 065
  727. MESALAMINE [Suspect]
     Active Substance: MESALAMINE
     Route: 065
  728. MESALAMINE [Suspect]
     Active Substance: MESALAMINE
     Route: 065
  729. MESALAMINE [Suspect]
     Active Substance: MESALAMINE
     Route: 065
  730. MESALAMINE [Suspect]
     Active Substance: MESALAMINE
     Route: 048
  731. MESALAMINE [Suspect]
     Active Substance: MESALAMINE
     Route: 048
  732. MESALAMINE [Suspect]
     Active Substance: MESALAMINE
     Route: 065
  733. MESALAMINE [Suspect]
     Active Substance: MESALAMINE
     Dosage: 2.4 G, 1 EVERY 1 MONTH
     Route: 065
  734. MESALAMINE [Suspect]
     Active Substance: MESALAMINE
     Indication: Colitis ulcerative
     Route: 048
  735. MESALAMINE [Suspect]
     Active Substance: MESALAMINE
     Route: 065
  736. MESALAMINE [Suspect]
     Active Substance: MESALAMINE
     Route: 065
  737. MESALAMINE [Suspect]
     Active Substance: MESALAMINE
     Route: 065
  738. MESALAMINE [Suspect]
     Active Substance: MESALAMINE
     Route: 048
  739. MESALAMINE [Suspect]
     Active Substance: MESALAMINE
     Route: 065
  740. MESALAMINE [Suspect]
     Active Substance: MESALAMINE
     Route: 065
  741. MESALAMINE [Suspect]
     Active Substance: MESALAMINE
     Route: 065
  742. MESALAMINE [Suspect]
     Active Substance: MESALAMINE
     Route: 065
  743. MESALAMINE [Suspect]
     Active Substance: MESALAMINE
     Route: 065
  744. MESALAMINE [Suspect]
     Active Substance: MESALAMINE
     Route: 048
  745. MESALAMINE [Suspect]
     Active Substance: MESALAMINE
     Route: 065
  746. MESALAMINE [Suspect]
     Active Substance: MESALAMINE
     Route: 065
  747. MESALAMINE [Suspect]
     Active Substance: MESALAMINE
     Route: 048
  748. MESALAMINE [Suspect]
     Active Substance: MESALAMINE
     Route: 065
  749. MESALAMINE [Suspect]
     Active Substance: MESALAMINE
     Route: 048
  750. MESALAMINE [Suspect]
     Active Substance: MESALAMINE
     Route: 065
  751. MESALAMINE [Suspect]
     Active Substance: MESALAMINE
     Route: 065
  752. MESALAMINE [Suspect]
     Active Substance: MESALAMINE
     Route: 065
  753. MESALAMINE [Suspect]
     Active Substance: MESALAMINE
     Route: 065
  754. MESALAMINE [Suspect]
     Active Substance: MESALAMINE
     Route: 065
  755. MESALAMINE [Suspect]
     Active Substance: MESALAMINE
     Route: 065
  756. MESALAMINE [Suspect]
     Active Substance: MESALAMINE
     Route: 065
  757. MESALAMINE [Suspect]
     Active Substance: MESALAMINE
     Route: 065
  758. MESALAMINE [Suspect]
     Active Substance: MESALAMINE
     Route: 065
  759. MESALAMINE [Suspect]
     Active Substance: MESALAMINE
     Route: 048
  760. MESALAMINE [Suspect]
     Active Substance: MESALAMINE
     Route: 065
  761. MESALAMINE [Suspect]
     Active Substance: MESALAMINE
     Route: 065
  762. MESALAMINE [Suspect]
     Active Substance: MESALAMINE
     Route: 048
  763. MESALAMINE [Suspect]
     Active Substance: MESALAMINE
     Route: 048
  764. MESALAMINE [Suspect]
     Active Substance: MESALAMINE
     Route: 065
  765. MESALAMINE [Suspect]
     Active Substance: MESALAMINE
     Indication: Colitis ulcerative
     Route: 065
  766. MESALAMINE [Suspect]
     Active Substance: MESALAMINE
     Route: 065
  767. MESALAMINE [Suspect]
     Active Substance: MESALAMINE
     Route: 065
  768. MESALAMINE [Suspect]
     Active Substance: MESALAMINE
     Route: 065
  769. MESALAMINE [Suspect]
     Active Substance: MESALAMINE
     Route: 065
  770. MESALAMINE [Suspect]
     Active Substance: MESALAMINE
     Route: 048
  771. MESALAMINE [Suspect]
     Active Substance: MESALAMINE
     Route: 065
  772. MESALAMINE [Suspect]
     Active Substance: MESALAMINE
     Route: 048
  773. MESALAMINE [Suspect]
     Active Substance: MESALAMINE
     Route: 065
  774. MESALAMINE [Suspect]
     Active Substance: MESALAMINE
     Route: 065
  775. MESALAMINE [Suspect]
     Active Substance: MESALAMINE
     Route: 065
  776. MESALAMINE [Suspect]
     Active Substance: MESALAMINE
     Route: 048
  777. MESALAMINE [Suspect]
     Active Substance: MESALAMINE
     Route: 065
  778. MESALAMINE [Suspect]
     Active Substance: MESALAMINE
     Route: 048
  779. MESALAMINE [Suspect]
     Active Substance: MESALAMINE
     Route: 048
  780. MESALAMINE [Suspect]
     Active Substance: MESALAMINE
     Route: 048
  781. MESALAMINE [Suspect]
     Active Substance: MESALAMINE
     Route: 065
  782. MESALAMINE [Suspect]
     Active Substance: MESALAMINE
     Route: 048
  783. MESALAMINE [Suspect]
     Active Substance: MESALAMINE
     Indication: Colitis ulcerative
     Route: 065
  784. MESALAMINE [Suspect]
     Active Substance: MESALAMINE
     Indication: Colitis ulcerative
     Route: 065
  785. MESALAMINE [Suspect]
     Active Substance: MESALAMINE
     Route: 048
  786. MESALAMINE [Suspect]
     Active Substance: MESALAMINE
     Route: 048
  787. MESALAMINE [Suspect]
     Active Substance: MESALAMINE
     Indication: Colitis ulcerative
     Route: 065
  788. MESALAMINE [Suspect]
     Active Substance: MESALAMINE
     Route: 065
  789. MESALAMINE [Suspect]
     Active Substance: MESALAMINE
     Route: 065
  790. MESALAMINE [Suspect]
     Active Substance: MESALAMINE
     Route: 048
  791. MESALAMINE [Suspect]
     Active Substance: MESALAMINE
     Route: 065
  792. MESALAMINE [Suspect]
     Active Substance: MESALAMINE
     Route: 065
  793. MESALAMINE [Suspect]
     Active Substance: MESALAMINE
     Route: 065
  794. MESALAMINE [Suspect]
     Active Substance: MESALAMINE
     Route: 065
  795. MESALAMINE [Suspect]
     Active Substance: MESALAMINE
     Route: 065
  796. MESALAMINE [Suspect]
     Active Substance: MESALAMINE
     Route: 065
  797. MESALAMINE [Suspect]
     Active Substance: MESALAMINE
     Route: 048
  798. MESALAMINE [Suspect]
     Active Substance: MESALAMINE
     Route: 065
  799. MESALAMINE [Suspect]
     Active Substance: MESALAMINE
     Route: 065
  800. MESALAMINE [Suspect]
     Active Substance: MESALAMINE
     Route: 048
  801. MESALAMINE [Suspect]
     Active Substance: MESALAMINE
     Route: 065
  802. MESALAMINE [Suspect]
     Active Substance: MESALAMINE
     Route: 065
  803. MESALAMINE [Suspect]
     Active Substance: MESALAMINE
     Route: 048
  804. MESALAMINE [Suspect]
     Active Substance: MESALAMINE
     Route: 065
  805. MESALAMINE [Suspect]
     Active Substance: MESALAMINE
     Route: 048
  806. MESALAMINE [Suspect]
     Active Substance: MESALAMINE
     Route: 065
  807. MESALAMINE [Suspect]
     Active Substance: MESALAMINE
     Route: 065
  808. MESALAMINE [Suspect]
     Active Substance: MESALAMINE
     Route: 065
  809. MESALAMINE [Suspect]
     Active Substance: MESALAMINE
     Route: 065
  810. MESALAMINE [Suspect]
     Active Substance: MESALAMINE
     Route: 065
  811. MESALAMINE [Suspect]
     Active Substance: MESALAMINE
     Route: 065
  812. MESALAMINE [Suspect]
     Active Substance: MESALAMINE
     Route: 065
  813. MESALAMINE [Suspect]
     Active Substance: MESALAMINE
     Route: 065
  814. MESALAMINE [Suspect]
     Active Substance: MESALAMINE
     Route: 065
  815. MESALAMINE [Suspect]
     Active Substance: MESALAMINE
     Route: 048
  816. MESALAMINE [Suspect]
     Active Substance: MESALAMINE
     Route: 065
  817. MESALAMINE [Suspect]
     Active Substance: MESALAMINE
     Route: 065
  818. MESALAMINE [Suspect]
     Active Substance: MESALAMINE
     Route: 065
  819. MESALAMINE [Suspect]
     Active Substance: MESALAMINE
     Route: 065
  820. MESALAMINE [Suspect]
     Active Substance: MESALAMINE
     Route: 048
  821. MESALAMINE [Suspect]
     Active Substance: MESALAMINE
     Route: 048
  822. MESALAMINE [Suspect]
     Active Substance: MESALAMINE
     Route: 065
  823. MESALAMINE [Suspect]
     Active Substance: MESALAMINE
     Route: 048
  824. MESALAMINE [Suspect]
     Active Substance: MESALAMINE
     Route: 048
  825. MESALAMINE [Suspect]
     Active Substance: MESALAMINE
     Route: 065
  826. MESALAMINE [Suspect]
     Active Substance: MESALAMINE
     Route: 065
  827. MESALAMINE [Suspect]
     Active Substance: MESALAMINE
     Route: 065
  828. MESALAMINE [Suspect]
     Active Substance: MESALAMINE
     Route: 065
  829. MESALAMINE [Suspect]
     Active Substance: MESALAMINE
     Route: 065
  830. MESALAMINE [Suspect]
     Active Substance: MESALAMINE
     Route: 065
  831. MESALAMINE [Suspect]
     Active Substance: MESALAMINE
     Route: 065
  832. MESALAMINE [Suspect]
     Active Substance: MESALAMINE
     Route: 065
  833. MESALAMINE [Suspect]
     Active Substance: MESALAMINE
     Route: 065
  834. MESALAMINE [Suspect]
     Active Substance: MESALAMINE
     Route: 065
  835. MESALAMINE [Suspect]
     Active Substance: MESALAMINE
     Route: 065
  836. MESALAMINE [Suspect]
     Active Substance: MESALAMINE
     Route: 065
  837. MESALAMINE [Suspect]
     Active Substance: MESALAMINE
     Indication: Colitis ulcerative
     Route: 065
  838. MESALAMINE [Suspect]
     Active Substance: MESALAMINE
     Route: 065
  839. MESALAMINE [Suspect]
     Active Substance: MESALAMINE
     Route: 048
  840. MESALAMINE [Suspect]
     Active Substance: MESALAMINE
     Route: 065
  841. MESALAMINE [Suspect]
     Active Substance: MESALAMINE
     Route: 065
  842. MESALAMINE [Suspect]
     Active Substance: MESALAMINE
     Route: 065
  843. MESALAMINE [Suspect]
     Active Substance: MESALAMINE
     Route: 065
  844. MESALAMINE [Suspect]
     Active Substance: MESALAMINE
     Route: 065
  845. MESALAMINE [Suspect]
     Active Substance: MESALAMINE
     Route: 065
  846. MESALAMINE [Suspect]
     Active Substance: MESALAMINE
     Route: 065
  847. MESALAMINE [Suspect]
     Active Substance: MESALAMINE
     Route: 065
  848. MESALAMINE [Suspect]
     Active Substance: MESALAMINE
     Route: 065
  849. MESALAMINE [Suspect]
     Active Substance: MESALAMINE
     Route: 048
  850. MESALAMINE [Suspect]
     Active Substance: MESALAMINE
     Route: 065
  851. MESALAMINE [Suspect]
     Active Substance: MESALAMINE
     Route: 065
  852. MESALAMINE [Suspect]
     Active Substance: MESALAMINE
     Route: 065
  853. MESALAMINE [Suspect]
     Active Substance: MESALAMINE
     Route: 065
  854. MESALAMINE [Suspect]
     Active Substance: MESALAMINE
     Route: 048
  855. MESALAMINE [Suspect]
     Active Substance: MESALAMINE
     Route: 065
  856. MESALAMINE [Suspect]
     Active Substance: MESALAMINE
     Route: 048
  857. MESALAMINE [Suspect]
     Active Substance: MESALAMINE
     Route: 065
  858. MESALAMINE [Suspect]
     Active Substance: MESALAMINE
     Route: 065
  859. MESALAMINE [Suspect]
     Active Substance: MESALAMINE
     Route: 065
  860. MESALAMINE [Suspect]
     Active Substance: MESALAMINE
     Indication: Colitis ulcerative
     Route: 048
  861. MESALAMINE [Suspect]
     Active Substance: MESALAMINE
     Route: 048
  862. MESALAMINE [Suspect]
     Active Substance: MESALAMINE
     Route: 048
  863. MESALAMINE [Suspect]
     Active Substance: MESALAMINE
     Route: 048
  864. MESALAMINE [Suspect]
     Active Substance: MESALAMINE
     Route: 065
  865. MESALAMINE [Suspect]
     Active Substance: MESALAMINE
     Route: 065
  866. MESALAMINE [Suspect]
     Active Substance: MESALAMINE
     Route: 065
  867. MESALAMINE [Suspect]
     Active Substance: MESALAMINE
     Route: 065
  868. MESALAMINE [Suspect]
     Active Substance: MESALAMINE
     Route: 065
  869. MESALAMINE [Suspect]
     Active Substance: MESALAMINE
     Route: 065
  870. MESALAMINE [Suspect]
     Active Substance: MESALAMINE
     Route: 065
  871. MESALAMINE [Suspect]
     Active Substance: MESALAMINE
     Route: 065
  872. MESALAMINE [Suspect]
     Active Substance: MESALAMINE
     Route: 048
  873. MESALAMINE [Suspect]
     Active Substance: MESALAMINE
     Route: 065
  874. MESALAMINE [Suspect]
     Active Substance: MESALAMINE
     Route: 065
  875. MESALAMINE [Suspect]
     Active Substance: MESALAMINE
     Route: 048
  876. MESALAMINE [Suspect]
     Active Substance: MESALAMINE
     Route: 048
  877. MESALAMINE [Suspect]
     Active Substance: MESALAMINE
     Route: 065
  878. MESALAMINE [Suspect]
     Active Substance: MESALAMINE
     Route: 065
  879. MESALAMINE [Suspect]
     Active Substance: MESALAMINE
     Route: 065
  880. MESALAMINE [Suspect]
     Active Substance: MESALAMINE
     Route: 065
  881. MESALAMINE [Suspect]
     Active Substance: MESALAMINE
     Route: 065
  882. MESALAMINE [Suspect]
     Active Substance: MESALAMINE
     Route: 065
  883. MESALAMINE [Suspect]
     Active Substance: MESALAMINE
     Route: 065
  884. MESALAMINE [Suspect]
     Active Substance: MESALAMINE
     Route: 065
  885. MESALAMINE [Suspect]
     Active Substance: MESALAMINE
     Route: 048
  886. MESALAMINE [Suspect]
     Active Substance: MESALAMINE
     Route: 065
  887. MESALAMINE [Suspect]
     Active Substance: MESALAMINE
     Route: 065
  888. MESALAMINE [Suspect]
     Active Substance: MESALAMINE
     Route: 065
  889. MESALAMINE [Suspect]
     Active Substance: MESALAMINE
     Route: 048
  890. MESALAMINE [Suspect]
     Active Substance: MESALAMINE
     Route: 065
  891. MESALAMINE [Suspect]
     Active Substance: MESALAMINE
     Route: 065
  892. MESALAMINE [Suspect]
     Active Substance: MESALAMINE
     Route: 065
  893. MESALAMINE [Suspect]
     Active Substance: MESALAMINE
     Route: 065
  894. MESALAMINE [Suspect]
     Active Substance: MESALAMINE
     Route: 065
  895. METHOTREXATE [Suspect]
     Active Substance: METHOTREXATE
     Indication: Colitis ulcerative
     Route: 065
  896. METHOTREXATE [Suspect]
     Active Substance: METHOTREXATE
     Route: 065
  897. METHOTREXATE [Suspect]
     Active Substance: METHOTREXATE
     Route: 065
  898. METHOTREXATE [Suspect]
     Active Substance: METHOTREXATE
     Route: 065
  899. METHOTREXATE [Suspect]
     Active Substance: METHOTREXATE
     Route: 065
  900. MESALAMINE [Suspect]
     Active Substance: MESALAMINE
     Indication: Colitis ulcerative
     Route: 065
  901. MESALAMINE [Suspect]
     Active Substance: MESALAMINE
     Route: 065
  902. MESALAMINE [Suspect]
     Active Substance: MESALAMINE
     Route: 065
  903. MESALAMINE [Suspect]
     Active Substance: MESALAMINE
     Route: 048
  904. MESALAMINE [Suspect]
     Active Substance: MESALAMINE
     Route: 048
  905. MESALAMINE [Suspect]
     Active Substance: MESALAMINE
     Route: 065
  906. MESALAMINE [Suspect]
     Active Substance: MESALAMINE
     Route: 042
  907. MESALAMINE [Suspect]
     Active Substance: MESALAMINE
     Route: 065
  908. MESALAMINE [Suspect]
     Active Substance: MESALAMINE
     Route: 048
  909. MESALAMINE [Suspect]
     Active Substance: MESALAMINE
     Route: 048
  910. MESALAMINE [Suspect]
     Active Substance: MESALAMINE
     Route: 065
  911. MESALAMINE [Suspect]
     Active Substance: MESALAMINE
     Route: 065
  912. MESALAMINE [Suspect]
     Active Substance: MESALAMINE
     Indication: Colitis ulcerative
     Route: 065
  913. MESALAMINE [Suspect]
     Active Substance: MESALAMINE
     Route: 065
  914. MESALAMINE [Suspect]
     Active Substance: MESALAMINE
     Route: 065
  915. MESALAMINE [Suspect]
     Active Substance: MESALAMINE
     Route: 048
  916. MESALAMINE [Suspect]
     Active Substance: MESALAMINE
     Route: 048
  917. MESALAMINE [Suspect]
     Active Substance: MESALAMINE
     Route: 065
  918. MESALAMINE [Suspect]
     Active Substance: MESALAMINE
     Route: 042
  919. MESALAMINE [Suspect]
     Active Substance: MESALAMINE
     Route: 065
  920. MESALAMINE [Suspect]
     Active Substance: MESALAMINE
     Route: 065
  921. MESALAMINE [Suspect]
     Active Substance: MESALAMINE
     Route: 065
  922. MESALAMINE [Suspect]
     Active Substance: MESALAMINE
     Indication: Colitis ulcerative
     Route: 065
  923. MESALAMINE [Suspect]
     Active Substance: MESALAMINE
     Route: 048
  924. MESALAMINE [Suspect]
     Active Substance: MESALAMINE
     Route: 048
  925. MESALAMINE [Suspect]
     Active Substance: MESALAMINE
     Route: 048
  926. MESALAMINE [Suspect]
     Active Substance: MESALAMINE
     Route: 065
  927. MESALAMINE [Suspect]
     Active Substance: MESALAMINE
     Route: 065
  928. MESALAMINE [Suspect]
     Active Substance: MESALAMINE
     Route: 065
  929. MESALAMINE [Suspect]
     Active Substance: MESALAMINE
     Route: 065
  930. MESALAMINE [Suspect]
     Active Substance: MESALAMINE
     Route: 048
  931. MESALAMINE [Suspect]
     Active Substance: MESALAMINE
     Route: 065
  932. MESALAMINE [Suspect]
     Active Substance: MESALAMINE
     Route: 048
  933. MESALAMINE [Suspect]
     Active Substance: MESALAMINE
     Route: 065
  934. MESALAMINE [Suspect]
     Active Substance: MESALAMINE
     Route: 065
  935. MESALAMINE [Suspect]
     Active Substance: MESALAMINE
     Route: 048
  936. MESALAMINE [Suspect]
     Active Substance: MESALAMINE
     Route: 065
  937. MESALAMINE [Suspect]
     Active Substance: MESALAMINE
     Route: 065
  938. MESALAMINE [Suspect]
     Active Substance: MESALAMINE
     Route: 065
  939. MESALAMINE [Suspect]
     Active Substance: MESALAMINE
     Route: 065
  940. MESALAMINE [Suspect]
     Active Substance: MESALAMINE
     Route: 065
  941. MESALAMINE [Suspect]
     Active Substance: MESALAMINE
     Route: 065
  942. MESALAMINE [Suspect]
     Active Substance: MESALAMINE
     Route: 048
  943. MESALAMINE [Suspect]
     Active Substance: MESALAMINE
     Route: 065
  944. MESALAMINE [Suspect]
     Active Substance: MESALAMINE
     Route: 065
  945. MESALAMINE [Suspect]
     Active Substance: MESALAMINE
     Indication: Colitis ulcerative
     Route: 065
  946. MESALAMINE [Suspect]
     Active Substance: MESALAMINE
     Route: 065
  947. MESALAMINE [Suspect]
     Active Substance: MESALAMINE
     Route: 048
  948. MESALAMINE [Suspect]
     Active Substance: MESALAMINE
     Route: 065
  949. MESALAMINE [Suspect]
     Active Substance: MESALAMINE
     Route: 065
  950. MESALAMINE [Suspect]
     Active Substance: MESALAMINE
     Route: 065
  951. MESALAMINE [Suspect]
     Active Substance: MESALAMINE
     Route: 065
  952. MESALAMINE [Suspect]
     Active Substance: MESALAMINE
     Route: 065
  953. MESALAMINE [Suspect]
     Active Substance: MESALAMINE
     Route: 065
  954. MESALAMINE [Suspect]
     Active Substance: MESALAMINE
     Route: 065
  955. MESALAMINE [Suspect]
     Active Substance: MESALAMINE
     Route: 065
  956. MESALAMINE [Suspect]
     Active Substance: MESALAMINE
     Route: 048
  957. MESALAMINE [Suspect]
     Active Substance: MESALAMINE
     Route: 065
  958. MESALAMINE [Suspect]
     Active Substance: MESALAMINE
     Route: 065
  959. MESALAMINE [Suspect]
     Active Substance: MESALAMINE
     Route: 065
  960. MESALAMINE [Suspect]
     Active Substance: MESALAMINE
     Route: 065
  961. MESALAMINE [Suspect]
     Active Substance: MESALAMINE
     Route: 048
  962. MESALAMINE [Suspect]
     Active Substance: MESALAMINE
     Route: 065
  963. MESALAMINE [Suspect]
     Active Substance: MESALAMINE
     Route: 048
  964. MESALAMINE [Suspect]
     Active Substance: MESALAMINE
     Route: 065
  965. MESALAMINE [Suspect]
     Active Substance: MESALAMINE
     Route: 065
  966. MESALAMINE [Suspect]
     Active Substance: MESALAMINE
     Route: 065
  967. MESALAMINE [Suspect]
     Active Substance: MESALAMINE
     Route: 065
  968. MESALAMINE [Suspect]
     Active Substance: MESALAMINE
     Route: 048
  969. MESALAMINE [Suspect]
     Active Substance: MESALAMINE
     Route: 048
  970. MESALAMINE [Suspect]
     Active Substance: MESALAMINE
     Route: 065
  971. MESALAMINE [Suspect]
     Active Substance: MESALAMINE
     Route: 065
  972. MESALAMINE [Suspect]
     Active Substance: MESALAMINE
     Route: 065
  973. PARA-AMINOSALICYLIC ACID [Suspect]
     Active Substance: AMINOSALICYLIC ACID
     Indication: Deep vein thrombosis
     Route: 048
  974. PARA-AMINOSALICYLIC ACID [Suspect]
     Active Substance: AMINOSALICYLIC ACID
     Indication: Colitis ulcerative
     Route: 048
  975. PARA-AMINOSALICYLIC ACID [Suspect]
     Active Substance: AMINOSALICYLIC ACID
     Route: 065
  976. PARA-AMINOSALICYLIC ACID [Suspect]
     Active Substance: AMINOSALICYLIC ACID
     Indication: Deep vein thrombosis
     Route: 048
  977. PARA-AMINOSALICYLIC ACID [Suspect]
     Active Substance: AMINOSALICYLIC ACID
     Indication: Colitis ulcerative
  978. PREDNISONE [Suspect]
     Active Substance: PREDNISONE
     Indication: Colitis ulcerative
     Route: 065
  979. PREDNISONE [Suspect]
     Active Substance: PREDNISONE
     Route: 065
  980. PREDNISONE [Suspect]
     Active Substance: PREDNISONE
     Route: 065
  981. PREDNISONE [Suspect]
     Active Substance: PREDNISONE
     Route: 065
  982. PREDNISONE [Suspect]
     Active Substance: PREDNISONE
     Route: 065
  983. PREDNISONE [Suspect]
     Active Substance: PREDNISONE
     Route: 048
  984. PREDNISONE [Suspect]
     Active Substance: PREDNISONE
     Route: 065
  985. PREDNISONE [Suspect]
     Active Substance: PREDNISONE
     Route: 065
  986. PREDNISONE [Suspect]
     Active Substance: PREDNISONE
     Route: 048
  987. PREDNISONE [Suspect]
     Active Substance: PREDNISONE
     Route: 065
  988. PREDNISONE [Suspect]
     Active Substance: PREDNISONE
     Route: 048
  989. PREDNISONE [Suspect]
     Active Substance: PREDNISONE
     Route: 065
  990. PREDNISONE [Suspect]
     Active Substance: PREDNISONE
     Route: 065
  991. PREDNISONE [Suspect]
     Active Substance: PREDNISONE
     Indication: Colitis ulcerative
     Route: 065
  992. PREDNISONE [Suspect]
     Active Substance: PREDNISONE
     Route: 065
  993. PREDNISONE [Suspect]
     Active Substance: PREDNISONE
     Route: 048
  994. PREDNISONE [Suspect]
     Active Substance: PREDNISONE
     Route: 065
  995. PREDNISONE [Suspect]
     Active Substance: PREDNISONE
     Route: 065
  996. PREDNISONE [Suspect]
     Active Substance: PREDNISONE
     Route: 048
  997. PREDNISONE [Suspect]
     Active Substance: PREDNISONE
     Route: 048
  998. PREDNISONE [Suspect]
     Active Substance: PREDNISONE
     Route: 065
  999. PREDNISONE [Suspect]
     Active Substance: PREDNISONE
     Route: 065
  1000. PREDNISONE [Suspect]
     Active Substance: PREDNISONE
     Route: 048
  1001. PREDNISONE [Suspect]
     Active Substance: PREDNISONE
     Route: 065
  1002. PREDNISONE [Suspect]
     Active Substance: PREDNISONE
     Route: 065
  1003. PREDNISONE [Suspect]
     Active Substance: PREDNISONE
     Route: 065
  1004. PREDNISONE [Suspect]
     Active Substance: PREDNISONE
     Route: 065
  1005. PREDNISONE [Suspect]
     Active Substance: PREDNISONE
     Indication: Colitis ulcerative
     Route: 065
  1006. PREDNISONE [Suspect]
     Active Substance: PREDNISONE
     Route: 048
  1007. PREDNISONE [Suspect]
     Active Substance: PREDNISONE
     Route: 065
  1008. PREDNISONE [Suspect]
     Active Substance: PREDNISONE
     Route: 065
  1009. PREDNISONE [Suspect]
     Active Substance: PREDNISONE
     Route: 048
  1010. PREDNISONE [Suspect]
     Active Substance: PREDNISONE
     Route: 065
  1011. FELODIPINE [Suspect]
     Active Substance: FELODIPINE
     Indication: Hypertension
     Route: 048
  1012. FELODIPINE [Suspect]
     Active Substance: FELODIPINE
     Route: 048
  1013. EPINEPHRINE HYDROCHLORIDE [Suspect]
     Active Substance: EPINEPHRINE HYDROCHLORIDE
     Indication: Product used for unknown indication
     Route: 065
  1014. AZD-1222 [Suspect]
     Active Substance: AZD-1222
     Indication: COVID-19 immunisation
     Route: 065
  1015. AZD-1222 [Suspect]
     Active Substance: AZD-1222
     Indication: COVID-19 immunisation
     Route: 065
  1016. AZD-1222 [Suspect]
     Active Substance: AZD-1222
     Indication: Adverse drug reaction
     Route: 065
  1017. AZD-1222 [Suspect]
     Active Substance: AZD-1222
     Route: 065
  1018. AZD-1222 [Suspect]
     Active Substance: AZD-1222
     Route: 065
  1019. AZD-1222 [Suspect]
     Active Substance: AZD-1222
     Route: 065
  1020. AZD-1222 [Suspect]
     Active Substance: AZD-1222
     Route: 065
  1021. AZD-1222 [Suspect]
     Active Substance: AZD-1222
     Route: 065
  1022. AZD-1222 [Suspect]
     Active Substance: AZD-1222
     Route: 065
  1023. AZD-1222 [Suspect]
     Active Substance: AZD-1222
     Route: 065
  1024. AZD-1222 [Suspect]
     Active Substance: AZD-1222
     Route: 065
  1025. AZD-1222 [Suspect]
     Active Substance: AZD-1222
     Route: 065
  1026. ESOMEPRAZOLE [Suspect]
     Active Substance: ESOMEPRAZOLE
     Indication: Gastritis
     Route: 065
  1027. ESCITALOPRAM [Suspect]
     Active Substance: ESCITALOPRAM OXALATE
     Indication: Product used for unknown indication
     Route: 065
  1028. DAPAGLIFLOZIN [Suspect]
     Active Substance: DAPAGLIFLOZIN
     Indication: Ill-defined disorder
     Route: 065
  1029. FUROSEMIDE [Suspect]
     Active Substance: FUROSEMIDE
     Indication: Product used for unknown indication
     Route: 065
  1030. MEBEVERINE HYDROCHLORIDE [Suspect]
     Active Substance: MEBEVERINE HYDROCHLORIDE
     Indication: Product used for unknown indication
     Route: 065
  1031. MEBEVERINE HYDROCHLORIDE [Suspect]
     Active Substance: MEBEVERINE HYDROCHLORIDE
     Route: 065
  1032. GABAPENTIN [Suspect]
     Active Substance: GABAPENTIN
     Indication: Product used for unknown indication
     Route: 065
  1033. LEVOTHYROXINE SODIUM [Suspect]
     Active Substance: LEVOTHYROXINE SODIUM
     Indication: Product used for unknown indication
     Route: 065
  1034. SULFASALAZINE [Suspect]
     Active Substance: SULFASALAZINE
     Indication: Colitis ulcerative
     Route: 065
  1035. SULFASALAZINE [Suspect]
     Active Substance: SULFASALAZINE
     Indication: Arthritis
     Route: 065
  1036. SULFASALAZINE [Suspect]
     Active Substance: SULFASALAZINE
     Route: 065
  1037. SULFASALAZINE [Suspect]
     Active Substance: SULFASALAZINE
     Route: 065
  1038. SULFASALAZINE [Suspect]
     Active Substance: SULFASALAZINE
     Route: 065
  1039. SULFASALAZINE [Suspect]
     Active Substance: SULFASALAZINE
     Route: 048
  1040. SULFASALAZINE [Suspect]
     Active Substance: SULFASALAZINE
     Route: 048
  1041. SULFASALAZINE [Suspect]
     Active Substance: SULFASALAZINE
     Route: 065
  1042. SULFASALAZINE [Suspect]
     Active Substance: SULFASALAZINE
     Route: 048
  1043. SULFASALAZINE [Suspect]
     Active Substance: SULFASALAZINE
     Route: 065
  1044. SULFASALAZINE [Suspect]
     Active Substance: SULFASALAZINE
     Route: 065
  1045. SULFASALAZINE [Suspect]
     Active Substance: SULFASALAZINE
     Route: 065
  1046. SULFASALAZINE [Suspect]
     Active Substance: SULFASALAZINE
     Indication: Colitis ulcerative
     Route: 065
  1047. SULFASALAZINE [Suspect]
     Active Substance: SULFASALAZINE
     Indication: Arthritis
     Route: 065
  1048. SULFASALAZINE [Suspect]
     Active Substance: SULFASALAZINE
     Route: 065
  1049. SULFASALAZINE [Suspect]
     Active Substance: SULFASALAZINE
     Route: 065
  1050. SULFASALAZINE [Suspect]
     Active Substance: SULFASALAZINE
     Route: 065
  1051. SULFASALAZINE [Suspect]
     Active Substance: SULFASALAZINE
     Route: 065
  1052. SULFASALAZINE [Suspect]
     Active Substance: SULFASALAZINE
     Route: 065
  1053. SULFASALAZINE [Suspect]
     Active Substance: SULFASALAZINE
     Route: 065
  1054. SULFASALAZINE [Suspect]
     Active Substance: SULFASALAZINE
     Route: 065
  1055. SULFASALAZINE [Suspect]
     Active Substance: SULFASALAZINE
     Route: 048
  1056. SULFASALAZINE [Suspect]
     Active Substance: SULFASALAZINE
     Route: 065
  1057. SULFASALAZINE [Suspect]
     Active Substance: SULFASALAZINE
     Route: 048
  1058. SULFASALAZINE [Suspect]
     Active Substance: SULFASALAZINE
     Route: 048
  1059. SULFASALAZINE [Suspect]
     Active Substance: SULFASALAZINE
     Route: 065
  1060. SULFASALAZINE [Suspect]
     Active Substance: SULFASALAZINE
     Route: 065
  1061. SULFASALAZINE [Suspect]
     Active Substance: SULFASALAZINE
     Route: 065
  1062. SULFASALAZINE [Suspect]
     Active Substance: SULFASALAZINE
     Route: 065
  1063. SULFASALAZINE [Suspect]
     Active Substance: SULFASALAZINE
     Route: 065
  1064. SULFASALAZINE [Suspect]
     Active Substance: SULFASALAZINE
     Route: 048
  1065. SULFASALAZINE [Suspect]
     Active Substance: SULFASALAZINE
     Route: 065
  1066. SULFASALAZINE [Suspect]
     Active Substance: SULFASALAZINE
     Route: 065
  1067. SULFASALAZINE [Suspect]
     Active Substance: SULFASALAZINE
     Route: 065
  1068. SULFASALAZINE [Suspect]
     Active Substance: SULFASALAZINE
     Route: 065
  1069. VEDOLIZUMAB [Suspect]
     Active Substance: VEDOLIZUMAB
     Indication: Colitis ulcerative
     Route: 048
  1070. VEDOLIZUMAB [Suspect]
     Active Substance: VEDOLIZUMAB
     Route: 048
  1071. VEDOLIZUMAB [Suspect]
     Active Substance: VEDOLIZUMAB
     Route: 042
  1072. VEDOLIZUMAB [Suspect]
     Active Substance: VEDOLIZUMAB
     Route: 042
  1073. VEDOLIZUMAB [Suspect]
     Active Substance: VEDOLIZUMAB
     Route: 042
  1074. VEDOLIZUMAB [Suspect]
     Active Substance: VEDOLIZUMAB
     Route: 048
  1075. VEDOLIZUMAB [Suspect]
     Active Substance: VEDOLIZUMAB
     Route: 065
  1076. VEDOLIZUMAB [Suspect]
     Active Substance: VEDOLIZUMAB
     Indication: Colitis ulcerative
     Route: 065
  1077. VEDOLIZUMAB [Suspect]
     Active Substance: VEDOLIZUMAB
     Indication: Deep vein thrombosis
     Route: 042
  1078. VEDOLIZUMAB [Suspect]
     Active Substance: VEDOLIZUMAB
     Route: 042
  1079. VEDOLIZUMAB [Suspect]
     Active Substance: VEDOLIZUMAB
     Route: 042
  1080. VEDOLIZUMAB [Suspect]
     Active Substance: VEDOLIZUMAB
     Route: 048
  1081. VEDOLIZUMAB [Suspect]
     Active Substance: VEDOLIZUMAB
     Route: 065
  1082. VEDOLIZUMAB [Suspect]
     Active Substance: VEDOLIZUMAB
     Route: 048
  1083. VEDOLIZUMAB [Suspect]
     Active Substance: VEDOLIZUMAB
     Route: 042
  1084. VEDOLIZUMAB [Suspect]
     Active Substance: VEDOLIZUMAB
     Indication: Colitis ulcerative
     Route: 065
  1085. WARFARIN [Suspect]
     Active Substance: WARFARIN
     Indication: Deep vein thrombosis
     Route: 048
  1086. WARFARIN [Suspect]
     Active Substance: WARFARIN
     Indication: Colitis ulcerative
     Route: 065
  1087. WARFARIN [Suspect]
     Active Substance: WARFARIN
     Route: 048
  1088. WARFARIN [Suspect]
     Active Substance: WARFARIN
     Route: 048
  1089. WARFARIN [Suspect]
     Active Substance: WARFARIN
     Route: 048
  1090. WARFARIN [Suspect]
     Active Substance: WARFARIN
     Route: 048
  1091. WARFARIN [Suspect]
     Active Substance: WARFARIN
     Route: 065
  1092. WARFARIN [Suspect]
     Active Substance: WARFARIN
     Route: 048
  1093. WARFARIN [Suspect]
     Active Substance: WARFARIN
     Route: 048
  1094. WARFARIN [Suspect]
     Active Substance: WARFARIN
     Indication: Deep vein thrombosis
     Route: 048
  1095. WARFARIN [Suspect]
     Active Substance: WARFARIN
     Route: 065
  1096. WARFARIN [Suspect]
     Active Substance: WARFARIN
     Route: 065
  1097. WARFARIN [Suspect]
     Active Substance: WARFARIN
     Route: 065
  1098. WARFARIN [Suspect]
     Active Substance: WARFARIN
     Route: 065
  1099. WARFARIN [Suspect]
     Active Substance: WARFARIN
     Route: 048
  1100. WARFARIN [Suspect]
     Active Substance: WARFARIN
     Route: 048
  1101. WARFARIN [Suspect]
     Active Substance: WARFARIN
     Route: 065
  1102. WARFARIN [Suspect]
     Active Substance: WARFARIN
     Indication: Deep vein thrombosis
     Route: 065
  1103. WARFARIN [Suspect]
     Active Substance: WARFARIN
     Indication: Colitis ulcerative
     Route: 065
  1104. WARFARIN [Suspect]
     Active Substance: WARFARIN
     Route: 065
  1105. WARFARIN [Suspect]
     Active Substance: WARFARIN
     Route: 065
  1106. WARFARIN [Suspect]
     Active Substance: WARFARIN
     Route: 065
  1107. WARFARIN [Suspect]
     Active Substance: WARFARIN
     Route: 048
  1108. WARFARIN [Suspect]
     Active Substance: WARFARIN
     Route: 048
  1109. METFORMIN [Suspect]
     Active Substance: METFORMIN HYDROCHLORIDE
     Indication: Product used for unknown indication
     Route: 065
  1110. METFORMIN [Suspect]
     Active Substance: METFORMIN HYDROCHLORIDE
     Route: 065
  1111. OXYCODONE [Suspect]
     Active Substance: OXYCODONE
     Indication: Product used for unknown indication
     Route: 065
  1112. OXYCODONE [Suspect]
     Active Substance: OXYCODONE
  1113. OXYCODONE [Suspect]
     Active Substance: OXYCODONE
     Route: 065
  1114. OMEPRAZOLE [Suspect]
     Active Substance: OMEPRAZOLE
     Indication: Gastritis
     Route: 065
  1115. OMEPRAZOLE [Suspect]
     Active Substance: OMEPRAZOLE
     Indication: Ill-defined disorder
     Route: 065
  1116. OMEPRAZOLE [Suspect]
     Active Substance: OMEPRAZOLE
     Route: 065
  1117. ROSUVASTATIN [Suspect]
     Active Substance: ROSUVASTATIN
     Indication: Ill-defined disorder
  1118. ROSUVASTATIN [Suspect]
     Active Substance: ROSUVASTATIN
     Indication: Blood cholesterol increased
  1119. ROSUVASTATIN [Suspect]
     Active Substance: ROSUVASTATIN
     Indication: Ill-defined disorder
     Route: 065
  1120. ROSUVASTATIN [Suspect]
     Active Substance: ROSUVASTATIN
     Indication: Blood cholesterol increased
     Route: 065
  1121. ROSUVASTATIN [Suspect]
     Active Substance: ROSUVASTATIN
     Route: 065
  1122. VITAMIN D3 [Suspect]
     Active Substance: CHOLECALCIFEROL
     Indication: Product used for unknown indication
     Route: 065
  1123. WARFARIN SODIUM [Suspect]
     Active Substance: WARFARIN SODIUM
     Indication: Product used for unknown indication
     Route: 048
  1124. WARFARIN SODIUM [Suspect]
     Active Substance: WARFARIN SODIUM
     Indication: Colitis ulcerative
     Route: 065
  1125. WARFARIN SODIUM [Suspect]
     Active Substance: WARFARIN SODIUM
     Route: 065
  1126. WARFARIN SODIUM [Suspect]
     Active Substance: WARFARIN SODIUM
     Route: 048
  1127. WARFARIN SODIUM [Suspect]
     Active Substance: WARFARIN SODIUM
     Route: 048
  1128. WARFARIN SODIUM [Suspect]
     Active Substance: WARFARIN SODIUM
     Route: 048
  1129. WARFARIN SODIUM [Suspect]
     Active Substance: WARFARIN SODIUM
     Route: 048
  1130. WARFARIN SODIUM [Suspect]
     Active Substance: WARFARIN SODIUM
     Route: 065
  1131. WARFARIN SODIUM [Suspect]
     Active Substance: WARFARIN SODIUM
     Route: 065
  1132. WARFARIN SODIUM [Suspect]
     Active Substance: WARFARIN SODIUM
     Route: 048
  1133. WARFARIN SODIUM [Suspect]
     Active Substance: WARFARIN SODIUM
     Indication: Deep vein thrombosis
     Route: 065
  1134. WARFARIN SODIUM [Suspect]
     Active Substance: WARFARIN SODIUM
     Indication: Colitis ulcerative
     Route: 048
  1135. WARFARIN SODIUM [Suspect]
     Active Substance: WARFARIN SODIUM
     Route: 065
  1136. WARFARIN SODIUM [Suspect]
     Active Substance: WARFARIN SODIUM
     Route: 048
  1137. WARFARIN SODIUM [Suspect]
     Active Substance: WARFARIN SODIUM
     Route: 048
  1138. WARFARIN SODIUM [Suspect]
     Active Substance: WARFARIN SODIUM
     Route: 048
  1139. WARFARIN SODIUM [Suspect]
     Active Substance: WARFARIN SODIUM
     Route: 048
  1140. WARFARIN SODIUM [Suspect]
     Active Substance: WARFARIN SODIUM
     Route: 065
  1141. WARFARIN SODIUM [Suspect]
     Active Substance: WARFARIN SODIUM
     Route: 065
  1142. WARFARIN SODIUM [Suspect]
     Active Substance: WARFARIN SODIUM
     Route: 065
  1143. WARFARIN SODIUM [Suspect]
     Active Substance: WARFARIN SODIUM
     Route: 048
  1144. WARFARIN SODIUM [Suspect]
     Active Substance: WARFARIN SODIUM
     Route: 048
  1145. WARFARIN SODIUM [Suspect]
     Active Substance: WARFARIN SODIUM
     Route: 048
  1146. WARFARIN SODIUM [Suspect]
     Active Substance: WARFARIN SODIUM
     Route: 048
  1147. WARFARIN SODIUM [Suspect]
     Active Substance: WARFARIN SODIUM
     Route: 065
  1148. WARFARIN SODIUM [Suspect]
     Active Substance: WARFARIN SODIUM
     Route: 065
  1149. WARFARIN SODIUM [Suspect]
     Active Substance: WARFARIN SODIUM
     Route: 065
  1150. WARFARIN SODIUM [Suspect]
     Active Substance: WARFARIN SODIUM
     Route: 048
  1151. WARFARIN SODIUM [Suspect]
     Active Substance: WARFARIN SODIUM
     Route: 048
  1152. WARFARIN SODIUM [Suspect]
     Active Substance: WARFARIN SODIUM
     Route: 048
  1153. FESOTERODINE FUMARATE [Concomitant]
     Active Substance: FESOTERODINE FUMARATE
     Route: 065
  1154. HUMIRA [Concomitant]
     Active Substance: ADALIMUMAB
     Indication: Deep vein thrombosis
     Route: 048
  1155. HUMIRA [Concomitant]
     Active Substance: ADALIMUMAB
     Indication: Crohn^s disease
     Route: 048
  1156. HUMIRA [Concomitant]
     Active Substance: ADALIMUMAB
     Indication: Colitis ulcerative
     Route: 048
  1157. HUMIRA [Concomitant]
     Active Substance: ADALIMUMAB
     Route: 065
  1158. HUMIRA [Concomitant]
     Active Substance: ADALIMUMAB
     Route: 065
  1159. HUMIRA [Concomitant]
     Active Substance: ADALIMUMAB
     Route: 058
  1160. HUMIRA [Concomitant]
     Active Substance: ADALIMUMAB
     Route: 048
  1161. HUMIRA [Concomitant]
     Active Substance: ADALIMUMAB
     Route: 048
  1162. HUMIRA [Concomitant]
     Active Substance: ADALIMUMAB
     Route: 048
  1163. HUMIRA [Concomitant]
     Active Substance: ADALIMUMAB
     Route: 048
  1164. HUMIRA [Concomitant]
     Active Substance: ADALIMUMAB
     Route: 048
  1165. HUMIRA [Concomitant]
     Active Substance: ADALIMUMAB
     Indication: Deep vein thrombosis
     Route: 048
  1166. HUMIRA [Concomitant]
     Active Substance: ADALIMUMAB
     Indication: Crohn^s disease
     Route: 048
  1167. HUMIRA [Concomitant]
     Active Substance: ADALIMUMAB
     Indication: Colitis ulcerative
     Route: 048
  1168. HUMIRA [Concomitant]
     Active Substance: ADALIMUMAB
     Route: 048
  1169. HUMIRA [Concomitant]
     Active Substance: ADALIMUMAB
     Route: 065
  1170. HUMIRA [Concomitant]
     Active Substance: ADALIMUMAB
     Route: 065
  1171. HUMIRA [Concomitant]
     Active Substance: ADALIMUMAB
     Route: 065
  1172. METHOTREXATE [Concomitant]
     Active Substance: METHOTREXATE
     Indication: Colitis ulcerative
     Route: 065
  1173. METHOTREXATE [Concomitant]
     Active Substance: METHOTREXATE
     Route: 065
  1174. METHOTREXATE [Concomitant]
     Active Substance: METHOTREXATE
     Route: 065
  1175. METHOTREXATE [Concomitant]
     Active Substance: METHOTREXATE
     Route: 065
  1176. METHOTREXATE [Concomitant]
     Active Substance: METHOTREXATE
     Route: 065
  1177. METHOTREXATE [Concomitant]
     Active Substance: METHOTREXATE
     Route: 065
  1178. METHOTREXATE [Concomitant]
     Active Substance: METHOTREXATE
  1179. METHOTREXATE [Concomitant]
     Active Substance: METHOTREXATE
     Indication: Colitis ulcerative
     Route: 065
  1180. METHOTREXATE [Concomitant]
     Active Substance: METHOTREXATE
     Route: 065
  1181. METHOTREXATE [Concomitant]
     Active Substance: METHOTREXATE
     Route: 048
  1182. METHOTREXATE [Concomitant]
     Active Substance: METHOTREXATE
     Route: 065
  1183. METHOTREXATE [Concomitant]
     Active Substance: METHOTREXATE
     Route: 065
  1184. METHOTREXATE [Concomitant]
     Active Substance: METHOTREXATE
     Route: 065
  1185. METHOTREXATE [Concomitant]
     Active Substance: METHOTREXATE
     Route: 065
  1186. TOFACITINIB CITRATE [Concomitant]
     Active Substance: TOFACITINIB CITRATE
     Indication: Product used for unknown indication
     Route: 065
  1187. XELJANZ [Concomitant]
     Active Substance: TOFACITINIB CITRATE
     Indication: Colitis ulcerative
     Route: 048
  1188. XELJANZ [Concomitant]
     Active Substance: TOFACITINIB CITRATE
     Route: 048
  1189. XELJANZ [Concomitant]
     Active Substance: TOFACITINIB CITRATE
     Route: 048
  1190. XELJANZ [Concomitant]
     Active Substance: TOFACITINIB CITRATE
     Route: 065
  1191. XELJANZ [Concomitant]
     Active Substance: TOFACITINIB CITRATE
     Indication: Colitis ulcerative
     Route: 048
  1192. XELJANZ [Concomitant]
     Active Substance: TOFACITINIB CITRATE
     Route: 048
  1193. XELJANZ [Concomitant]
     Active Substance: TOFACITINIB CITRATE
  1194. XELJANZ [Concomitant]
     Active Substance: TOFACITINIB CITRATE
     Route: 065
  1195. XELJANZ [Concomitant]
     Active Substance: TOFACITINIB CITRATE
     Route: 048
  1196. XELJANZ [Concomitant]
     Active Substance: TOFACITINIB CITRATE
     Route: 048
  1197. XELJANZ [Concomitant]
     Active Substance: TOFACITINIB CITRATE
     Route: 065
  1198. SULFASALAZINE [Concomitant]
     Active Substance: SULFASALAZINE
     Indication: Colitis ulcerative
     Route: 065
  1199. SULFASALAZINE [Concomitant]
     Active Substance: SULFASALAZINE
     Route: 065
  1200. SULFASALAZINE [Concomitant]
     Active Substance: SULFASALAZINE
     Route: 065

REACTIONS (55)
  - Bronchiectasis [Not Recovered/Not Resolved]
  - Colitis ulcerative [Not Recovered/Not Resolved]
  - Burns second degree [Not Recovered/Not Resolved]
  - Dysgeusia [Not Recovered/Not Resolved]
  - Somnolence [Not Recovered/Not Resolved]
  - Nightmare [Not Recovered/Not Resolved]
  - Cardiac murmur [Not Recovered/Not Resolved]
  - Catarrh [Not Recovered/Not Resolved]
  - Gingival pain [Not Recovered/Not Resolved]
  - Hypopnoea [Not Recovered/Not Resolved]
  - Parosmia [Not Recovered/Not Resolved]
  - Tubulointerstitial nephritis [Not Recovered/Not Resolved]
  - Swollen tongue [Not Recovered/Not Resolved]
  - Impaired quality of life [Not Recovered/Not Resolved]
  - Impaired work ability [Not Recovered/Not Resolved]
  - Loss of personal independence in daily activities [Not Recovered/Not Resolved]
  - Steroid dependence [Not Recovered/Not Resolved]
  - Stress [Not Recovered/Not Resolved]
  - Condition aggravated [Not Recovered/Not Resolved]
  - Haematochezia [Not Recovered/Not Resolved]
  - Rectal haemorrhage [Not Recovered/Not Resolved]
  - Abdominal discomfort [Not Recovered/Not Resolved]
  - Deep vein thrombosis [Not Recovered/Not Resolved]
  - Frequent bowel movements [Not Recovered/Not Resolved]
  - Depression [Not Recovered/Not Resolved]
  - Migraine [Not Recovered/Not Resolved]
  - Confusional state [Not Recovered/Not Resolved]
  - Eczema [Not Recovered/Not Resolved]
  - Systemic lupus erythematosus [Not Recovered/Not Resolved]
  - Tinnitus [Not Recovered/Not Resolved]
  - Vertigo [Not Recovered/Not Resolved]
  - Weight decreased [Not Recovered/Not Resolved]
  - Adverse drug reaction [Not Recovered/Not Resolved]
  - Arthritis [Not Recovered/Not Resolved]
  - COVID-19 [Not Recovered/Not Resolved]
  - Cerebrovascular accident [Not Recovered/Not Resolved]
  - Fatigue [Not Recovered/Not Resolved]
  - Headache [Not Recovered/Not Resolved]
  - Pain [Not Recovered/Not Resolved]
  - Pain in extremity [Not Recovered/Not Resolved]
  - Palpitations [Not Recovered/Not Resolved]
  - Pulmonary embolism [Not Recovered/Not Resolved]
  - Pyrexia [Not Recovered/Not Resolved]
  - Rash [Not Recovered/Not Resolved]
  - Rhinitis [Not Recovered/Not Resolved]
  - Alcohol poisoning [Not Recovered/Not Resolved]
  - Accidental overdose [Not Recovered/Not Resolved]
  - Medication error [Not Recovered/Not Resolved]
  - Off label use [Not Recovered/Not Resolved]
  - Drug ineffective [Not Recovered/Not Resolved]
  - Product use in unapproved indication [Not Recovered/Not Resolved]
  - Intentional product use issue [Not Recovered/Not Resolved]
  - Inappropriate schedule of product administration [Not Recovered/Not Resolved]
  - Intentional product use issue [Unknown]
  - Intentional product use issue [Unknown]
